FAERS Safety Report 21205675 (Version 22)
Quarter: 2023Q1

REPORT INFORMATION
  Report Type: Report from Study
  Country: GB (occurrence: GB)
  Receive Date: 20220812
  Receipt Date: 20230316
  Transmission Date: 20230418
  Serious: Yes (Life-Threatening, Hospitalization, Other)
  Sender: FDA-Public Use
  Company Number: GB-CELLTRION INC.-2022GB012663

PATIENT

DRUGS (660)
  1. TRASTUZUMAB [Suspect]
     Active Substance: TRASTUZUMAB
     Indication: HER2 positive breast cancer
     Dosage: 399 MILLIGRAM EVERY 3 WEEKS SUBSEQUENT DOSE RECEIVED ON 11/NOV/2018 (CUMULATIVE DOSE: 5985.0 MG)
     Route: 042
     Dates: start: 20150203, end: 20150203
  2. TRASTUZUMAB [Suspect]
     Active Substance: TRASTUZUMAB
     Indication: Breast cancer
     Dosage: 584 MG TOTAL LOADING DOSE EVERY 3 WEEKS
     Route: 042
     Dates: start: 20150209, end: 20150209
  3. TRASTUZUMAB [Suspect]
     Active Substance: TRASTUZUMAB
     Indication: Breast cancer metastatic
     Dosage: 504 MILLIGRAM (LOADING DOSE) (CUMULATIVE DOSE: 22176.0 MG)
     Route: 042
     Dates: start: 20150209, end: 20150209
  4. TRASTUZUMAB [Suspect]
     Active Substance: TRASTUZUMAB
     Dosage: 378 MILLIGRAM EVERY 3 WEEKS (MAINTENANCE DOSE) (CUMULATIVE DOSE TO FIRST REACTION: 773.25 MG)
     Route: 042
     Dates: start: 20150303, end: 20151021
  5. TRASTUZUMAB [Suspect]
     Active Substance: TRASTUZUMAB
     Dosage: 420 MILLIGRAM EVERY 3 WEEKS (CUMULATIVE DOSE TO FIRST REACTION: 4620.0 MG)
     Route: 042
     Dates: start: 20151111, end: 20151202
  6. TRASTUZUMAB [Suspect]
     Active Substance: TRASTUZUMAB
     Dosage: 378 MILLIGRAM EVERY 3 WEEKS (378 MG, Q3W)CUMULATIVE DOSE TO FIRST REACTION: 4518.75 MG
     Route: 048
     Dates: start: 20151222, end: 20160113
  7. TRASTUZUMAB [Suspect]
     Active Substance: TRASTUZUMAB
     Dosage: 399 MILLIGRAM EVERY 3 WEEKS (399 MG, Q3W) (CUMULATIVE DOSE: 950.0 MG)
     Route: 042
     Dates: start: 20160203, end: 20160203
  8. TRASTUZUMAB [Suspect]
     Active Substance: TRASTUZUMAB
     Dosage: 378 MILLIGRAM EVERY 3 WEEKS(CUMULATIVE DOSE:6048.0 MG)
     Route: 042
     Dates: start: 20160224, end: 20160406
  9. TRASTUZUMAB [Suspect]
     Active Substance: TRASTUZUMAB
     Dosage: 399 MILLIGRAM EVERY 3 WEEKS SUBSEQUENT DOSE RECEIVED ON 11/NOV/2018
     Route: 042
     Dates: start: 20151111, end: 20151202
  10. TRASTUZUMAB [Suspect]
     Active Substance: TRASTUZUMAB
     Dosage: 420MG EVERY THREE WEEKS (420 MG, Q3W)
     Route: 042
     Dates: start: 20160404, end: 20170111
  11. TRASTUZUMAB [Suspect]
     Active Substance: TRASTUZUMAB
     Dosage: 420 MILLIGRAM EVERY 3 WEEKS (CUMULATIVE DOSE: 12810 MG)
     Route: 042
     Dates: start: 20160427, end: 20170111
  12. TRASTUZUMAB [Suspect]
     Active Substance: TRASTUZUMAB
     Dosage: 240 MG
     Route: 042
     Dates: start: 20170201
  13. TRASTUZUMAB [Suspect]
     Active Substance: TRASTUZUMAB
     Dosage: 399 MG EVERY 3 WEEKS(CUMULATIVE DOSE: 4389.0 MG)
     Route: 042
     Dates: start: 20151111, end: 20151202
  14. TRASTUZUMAB [Suspect]
     Active Substance: TRASTUZUMAB
     Dosage: 399 MG EVERY 3 WEEKS (CUMULATIVE DOSE: 950.0MG)
     Route: 042
     Dates: start: 20150203, end: 20150203
  15. TRASTUZUMAB [Suspect]
     Active Substance: TRASTUZUMAB
     Dosage: 399 MG EVERY 3 WEEKS (CUMULATIVE DOSE: 950.0MG)
     Route: 042
     Dates: start: 20150203, end: 20150203
  16. TRASTUZUMAB [Suspect]
     Active Substance: TRASTUZUMAB
     Dosage: 399 MG EVERY 3 WEEKS (CUMULATIVE DOSE: 950.0MG)
     Route: 042
     Dates: start: 20150203, end: 20150203
  17. TRASTUZUMAB [Suspect]
     Active Substance: TRASTUZUMAB
     Dosage: 399 MG EVERY 3 WEEKS (CUMULATIVE DOSE: 950.0MG)
     Route: 042
     Dates: start: 20150203, end: 20150203
  18. TRASTUZUMAB [Suspect]
     Active Substance: TRASTUZUMAB
     Dosage: 240 MG
     Route: 042
     Dates: start: 20170201, end: 20170722
  19. TRASTUZUMAB [Suspect]
     Active Substance: TRASTUZUMAB
     Dosage: 240 MG
     Route: 042
     Dates: start: 20170201
  20. TRASTUZUMAB [Suspect]
     Active Substance: TRASTUZUMAB
     Dosage: 240 MG
     Route: 042
     Dates: start: 20170201
  21. TRASTUZUMAB [Suspect]
     Active Substance: TRASTUZUMAB
     Dosage: 240 MG
     Route: 042
     Dates: start: 20170201
  22. TRASTUZUMAB [Suspect]
     Active Substance: TRASTUZUMAB
     Dosage: 378 MILLIGRAM EVERY 3 WEEKS (MAINTENANCE DOSE) (CUMULATIVE DOSE TO FIRST REACTION: 773.25 MG)
     Route: 042
     Dates: start: 20150303, end: 20151021
  23. TRASTUZUMAB [Suspect]
     Active Substance: TRASTUZUMAB
     Dosage: 378 MILLIGRAM EVERY 3 WEEKS, MAINTENANCE DOSE, (CUMULATIVE DOSE TO FIRST REACTION: 773.25 MG)
     Route: 042
     Dates: start: 20150303, end: 20151021
  24. TRASTUZUMAB [Suspect]
     Active Substance: TRASTUZUMAB
     Dosage: 378 MILLIGRAM EVERY 3 WEEKS, MAINTENANCE DOSE, (CUMULATIVE DOSE TO FIRST REACTION: 773.25 MG)
     Route: 042
     Dates: start: 20150303, end: 20151021
  25. TRASTUZUMAB [Suspect]
     Active Substance: TRASTUZUMAB
     Dosage: 378 MILLIGRAM EVERY 3 WEEKS, MAINTENANCE DOSE, (CUMULATIVE DOSE TO FIRST REACTION: 773.25 MG)
     Route: 042
     Dates: start: 20150303, end: 20151021
  26. TRASTUZUMAB [Suspect]
     Active Substance: TRASTUZUMAB
     Dosage: 399 MILLIGRAM EVERY 3 WEEKS (CUMULATIVE DOSE TO FIRST REACTION: 3990.7917 MG)
     Route: 042
     Dates: start: 20151111, end: 20151202
  27. TRASTUZUMAB [Suspect]
     Active Substance: TRASTUZUMAB
     Dosage: 399 MILLIGRAM EVERY 3 WEEKS (CUMULATIVE DOSE TO FIRST REACTION: 3990.7917 MG)
     Route: 042
     Dates: start: 20151111, end: 20151202
  28. TRASTUZUMAB [Suspect]
     Active Substance: TRASTUZUMAB
     Dosage: 399 MILLIGRAM EVERY 3 WEEKS (CUMULATIVE DOSE TO FIRST REACTION: 3990.7917 MG)
     Route: 042
     Dates: start: 20151111, end: 20151202
  29. TRASTUZUMAB [Suspect]
     Active Substance: TRASTUZUMAB
     Dosage: 399 MILLIGRAM EVERY 3 WEEKS (CUMULATIVE DOSE TO FIRST REACTION: 3990.7917 MG)
     Route: 042
     Dates: start: 20151111, end: 20151202
  30. TRASTUZUMAB [Suspect]
     Active Substance: TRASTUZUMAB
     Dosage: 399 MILLIGRAM EVERY 3 WEEKS (CUMULATIVE DOSE TO FIRST REACTION: 3990.7917 MG)
     Route: 042
     Dates: start: 20151111, end: 20151202
  31. TRASTUZUMAB [Suspect]
     Active Substance: TRASTUZUMAB
     Dosage: 504 MILLIGRAM (LOADING DOSE) TOTAL (CUMULATIVE DOSE: 22176.0MG)
     Route: 042
     Dates: start: 20150209, end: 20150209
  32. TRASTUZUMAB [Suspect]
     Active Substance: TRASTUZUMAB
     Dosage: 504 MILLIGRAM (LOADING DOSE) TOTAL (CUMULATIVE DOSE: 22176.0MG)
     Route: 042
     Dates: start: 20150209, end: 20150209
  33. TRASTUZUMAB [Suspect]
     Active Substance: TRASTUZUMAB
     Dosage: 504 MILLIGRAM (LOADING DOSE) TOTAL (CUMULATIVE DOSE: 22176.0MG)
     Route: 042
     Dates: start: 20150209, end: 20150209
  34. TRASTUZUMAB [Suspect]
     Active Substance: TRASTUZUMAB
     Dosage: 399 MILLIGRAM EVERY 3 WEEKS SUBSEQUENT DOSE RECEIVED ON 11/NOV/2018, (CUMULATIVE DOSE TO FIRST REACT
     Route: 042
     Dates: start: 20160203, end: 20160203
  35. TRASTUZUMAB [Suspect]
     Active Substance: TRASTUZUMAB
     Dosage: 399 MILLIGRAM EVERY 3 WEEKS SUBSEQUENT DOSE RECEIVED ON 11/NOV/2018, (CUMULATIVE DOSE TO FIRST REACT
     Route: 042
     Dates: start: 20160203, end: 20160203
  36. TRASTUZUMAB [Suspect]
     Active Substance: TRASTUZUMAB
     Dosage: 399 MILLIGRAM EVERY 3 WEEKS SUBSEQUENT DOSE RECEIVED ON 11/NOV/2018, (CUMULATIVE DOSE TO FIRST REACT
     Route: 042
     Dates: start: 20160203, end: 20160203
  37. TRASTUZUMAB [Suspect]
     Active Substance: TRASTUZUMAB
     Dosage: 399 MILLIGRAM EVERY 3 WEEKS SUBSEQUENT DOSE RECEIVED ON 11/NOV/2018, (CUMULATIVE DOSE TO FIRST REACT
     Route: 042
     Dates: start: 20160203, end: 20160203
  38. TRASTUZUMAB [Suspect]
     Active Substance: TRASTUZUMAB
     Dosage: 399 MILLIGRAM EVERY 3 WEEKS SUBSEQUENT DOSE RECEIVED ON 11/NOV/2018, (CUMULATIVE DOSE TO FIRST REACT
     Route: 042
     Dates: start: 20160203, end: 20160203
  39. TRASTUZUMAB [Suspect]
     Active Substance: TRASTUZUMAB
     Dosage: 378 MILLIGRAM EVERY 3 WEEKS (CUMULATIVE DOSE TO FIRST REACTION: 5670.75MG)
     Route: 042
     Dates: start: 20160224, end: 20160406
  40. TRASTUZUMAB [Suspect]
     Active Substance: TRASTUZUMAB
     Dosage: 378 MILLIGRAM EVERY 3 WEEKS (CUMULATIVE DOSE TO FIRST REACTION: 5670.75MG)
     Route: 042
     Dates: start: 20160224, end: 20160406
  41. TRASTUZUMAB [Suspect]
     Active Substance: TRASTUZUMAB
     Dosage: 378 MILLIGRAM EVERY 3 WEEKS (CUMULATIVE DOSE TO FIRST REACTION: 5670.75MG)
     Route: 042
     Dates: start: 20160224, end: 20160406
  42. TRASTUZUMAB [Suspect]
     Active Substance: TRASTUZUMAB
     Dosage: 378 MILLIGRAM EVERY 3 WEEKS (CUMULATIVE DOSE TO FIRST REACTION: 5670.75MG)
     Route: 042
     Dates: start: 20160224, end: 20160406
  43. TRASTUZUMAB [Suspect]
     Active Substance: TRASTUZUMAB
     Dosage: 378 MILLIGRAM EVERY 3 WEEKS (CUMULATIVE DOSE TO FIRST REACTION: 5670.75MG)
     Route: 042
     Dates: start: 20160224, end: 20160406
  44. TRASTUZUMAB [Suspect]
     Active Substance: TRASTUZUMAB
     Dosage: 378 MILLIGRAM EVERY 3 WEEKS (CUMULATIVE DOSE TO FIRST REACTION: 4518.75 MG)
     Route: 042
     Dates: start: 20151222, end: 20160113
  45. TRASTUZUMAB [Suspect]
     Active Substance: TRASTUZUMAB
     Dosage: 378 MILLIGRAM EVERY 3 WEEKS (CUMULATIVE DOSE TO FIRST REACTION: 4518.75 MG)
     Route: 042
     Dates: start: 20151222, end: 20160113
  46. TRASTUZUMAB [Suspect]
     Active Substance: TRASTUZUMAB
     Dosage: 378 MILLIGRAM EVERY 3 WEEKS (CUMULATIVE DOSE TO FIRST REACTION: 4518.75 MG)
     Route: 042
     Dates: start: 20151222, end: 20160113
  47. TRASTUZUMAB [Suspect]
     Active Substance: TRASTUZUMAB
     Dosage: 378 MILLIGRAM EVERY 3 WEEKS (CUMULATIVE DOSE TO FIRST REACTION: 4518.75 MG)
     Route: 042
     Dates: start: 20151222, end: 20160113
  48. TRASTUZUMAB [Suspect]
     Active Substance: TRASTUZUMAB
     Dosage: 420 MG EVERY 3 WEEKS (CUMULATIVE DOSE TO FIRST REACTION: 7560.0 MG)
     Route: 042
     Dates: start: 20160427, end: 20170111
  49. TRASTUZUMAB [Suspect]
     Active Substance: TRASTUZUMAB
     Dosage: 420 MG EVERY 3 WEEKS (CUMULATIVE DOSE TO FIRST REACTION: 7560.0 MG)
     Route: 042
     Dates: start: 20160427, end: 20170111
  50. TRASTUZUMAB [Suspect]
     Active Substance: TRASTUZUMAB
     Dosage: 584 MG TOTAL LOADING DOSE EVERY 3 WEEKS
     Route: 042
     Dates: start: 20150209, end: 20150209
  51. TRASTUZUMAB [Suspect]
     Active Substance: TRASTUZUMAB
     Indication: HER2 positive breast cancer
     Dosage: 230 MG EVERY 3 WEEKS (CUMULATIVE DOSE: 9582.877 MG)
     Route: 042
     Dates: start: 20170816
  52. TRASTUZUMAB [Suspect]
     Active Substance: TRASTUZUMAB
     Indication: Breast cancer
     Dosage: 378 MG (MAINTENANCE DOSE) (CUMULATIVE DOSE: 396.0 MG)
     Route: 042
     Dates: start: 20150303, end: 20170201
  53. TRASTUZUMAB [Suspect]
     Active Substance: TRASTUZUMAB
     Indication: Breast cancer metastatic
     Dosage: 378 MG EVERY 3 WEEKS
     Route: 042
     Dates: start: 20150210
  54. TRASTUZUMAB [Suspect]
     Active Substance: TRASTUZUMAB
     Dosage: 378 MG, Q3W (MAINTENANCE DOSE)
     Route: 042
     Dates: start: 20150303, end: 20170201
  55. TRASTUZUMAB [Suspect]
     Active Substance: TRASTUZUMAB
     Dosage: 399 MG, Q3W (SUBSEQUENT DOSE RECEIVED ON 11 NOV 2018, CUMULATIVE DOSE TO FIRST REACT)(CUMULATIVE DOS
     Route: 042
     Dates: start: 20160203, end: 20160203
  56. TRASTUZUMAB [Suspect]
     Active Substance: TRASTUZUMAB
     Dosage: 230 MG, TIW
     Route: 042
     Dates: start: 20170819
  57. TRASTUZUMAB [Suspect]
     Active Substance: TRASTUZUMAB
     Dosage: 420 MG, Q3W (CUMULATIVE DOSE: 7519.1665 MG)
     Route: 042
     Dates: start: 20160404, end: 20170111
  58. TRASTUZUMAB [Suspect]
     Active Substance: TRASTUZUMAB
     Dosage: 378 MG, Q3W (CUMULATIVE DOSE: 5796.0 MG)
     Route: 042
     Dates: start: 20160210
  59. TRASTUZUMAB [Suspect]
     Active Substance: TRASTUZUMAB
     Dosage: 378 MILLIGRAM EVERY 3 WEEKS, MAINTENANCE DOSE, (CUMULATIVE DOSE TO FIRST REACTION: 773.25 MG)
     Route: 042
     Dates: start: 20150303, end: 20151021
  60. TRASTUZUMAB [Suspect]
     Active Substance: TRASTUZUMAB
     Dosage: 378MG EVERY 3 WEKS, MAINTENANCE DOSE
     Route: 042
     Dates: start: 20150303, end: 20170201
  61. TRASTUZUMAB [Suspect]
     Active Substance: TRASTUZUMAB
     Dosage: 399 MG EVERY 3 WEEKS (CUMULATIVE DOSE: 950.0 MG)
     Route: 042
     Dates: start: 20150203, end: 20150203
  62. TRASTUZUMAB [Suspect]
     Active Substance: TRASTUZUMAB
     Dosage: 230 MG EVERY 3 WEEKS (CUMULATIVE DOSE: 9582.877 MG)
     Route: 042
     Dates: start: 20170816
  63. TRASTUZUMAB [Suspect]
     Active Substance: TRASTUZUMAB
     Dosage: 230 MG EVERY 3 WEEKS (CUMULATIVE DOSE: 9582.877 MG)
     Route: 042
     Dates: start: 20170816
  64. TRASTUZUMAB [Suspect]
     Active Substance: TRASTUZUMAB
     Dosage: 230 MG EVERY 3 WEEKS (CUMULATIVE DOSE: 9582.877 MG)
     Route: 042
     Dates: start: 20170816
  65. TRASTUZUMAB [Suspect]
     Active Substance: TRASTUZUMAB
     Dosage: 230 MG EVERY 3 WEEKS (CUMULATIVE DOSE: 9582.877 MG)
     Route: 042
     Dates: start: 20170816
  66. TRASTUZUMAB [Suspect]
     Active Substance: TRASTUZUMAB
     Dosage: 504 MG, QD LOADING DOSE (CUMULATIVE DOSE: 22176.0 MG)
     Route: 042
     Dates: start: 20150209, end: 20150209
  67. TRASTUZUMAB [Suspect]
     Active Substance: TRASTUZUMAB
     Dosage: 399.00 MILLIGRAMS Q3W - EVERY 3 WEEKS (CUMULATIVE DOSE: 4389.0 MG)
     Route: 042
     Dates: start: 20151111, end: 20151202
  68. TRASTUZUMAB [Suspect]
     Active Substance: TRASTUZUMAB
     Dosage: 399.00 MILLIGRAMS Q3W - EVERY 3 WEEKS (CUMULATIVE DOSE: 4389.0 MG)
     Route: 042
     Dates: start: 20151111, end: 20151202
  69. TRASTUZUMAB [Suspect]
     Active Substance: TRASTUZUMAB
     Dosage: 399.00 MILLIGRAMS Q3W - EVERY 3 WEEKS (CUMULATIVE DOSE: 4389.0 MG)
     Route: 042
     Dates: start: 20151111, end: 20151202
  70. TRASTUZUMAB [Suspect]
     Active Substance: TRASTUZUMAB
     Dosage: 399.00 MILLIGRAMS Q3W - EVERY 3 WEEKS (CUMULATIVE DOSE: 4389.0 MG)
     Route: 042
     Dates: start: 20151111, end: 20151202
  71. TRASTUZUMAB [Suspect]
     Active Substance: TRASTUZUMAB
     Dosage: 420 MG EVERY 3 WEEKS (CUMULATIVE DOSE TO FIRST REACTION: 7979.1665 MG)
     Route: 042
     Dates: start: 20160427, end: 20170111
  72. TRASTUZUMAB [Suspect]
     Active Substance: TRASTUZUMAB
     Dosage: 420 MG EVERY 3 WEEKS (CUMULATIVE DOSE TO FIRST REACTION: 7979.1665 MG)
     Route: 042
     Dates: start: 20160427, end: 20170111
  73. TRASTUZUMAB [Suspect]
     Active Substance: TRASTUZUMAB
     Dosage: 420 MG EVERY 3 WEEKS (CUMULATIVE DOSE TO FIRST REACTION: 7979.1665 MG)
     Route: 042
     Dates: start: 20160427, end: 20170111
  74. TRASTUZUMAB [Suspect]
     Active Substance: TRASTUZUMAB
     Dosage: 420 MG EVERY 3 WEEKS (CUMULATIVE DOSE TO FIRST REACTION: 7979.1665 MG)
     Route: 042
     Dates: start: 20160427, end: 20170111
  75. TRASTUZUMAB [Suspect]
     Active Substance: TRASTUZUMAB
     Dosage: 420 MG EVERY 3 WEEKS (CUMULATIVE DOSE TO FIRST REACTION: 7979.1665 MG)
     Route: 042
     Dates: start: 20160427, end: 20170111
  76. TRASTUZUMAB [Suspect]
     Active Substance: TRASTUZUMAB
     Dosage: 378 MG (MAINTENANCE DOSE) (CUMULATIVE DOSE: 396.0 MG)
     Route: 042
     Dates: start: 20150303, end: 20170201
  77. TRASTUZUMAB [Suspect]
     Active Substance: TRASTUZUMAB
     Dosage: 378 MG (MAINTENANCE DOSE) (CUMULATIVE DOSE: 396.0 MG)
     Route: 042
     Dates: start: 20150303, end: 20170201
  78. TRASTUZUMAB [Suspect]
     Active Substance: TRASTUZUMAB
     Dosage: 378.00 MILLIGRAMS Q3W - EVERY 3 WEEKS (CUMULATIVE DOSE TO FIRST REACTION :396.0 MG)
     Route: 042
     Dates: start: 20150303, end: 20151021
  79. TRASTUZUMAB [Suspect]
     Active Substance: TRASTUZUMAB
     Dosage: 378.00 MILLIGRAMS Q3W - EVERY 3 WEEKS (CUMULATIVE DOSE TO FIRST REACTION :396.0 MG)
     Route: 042
     Dates: start: 20150303, end: 20151021
  80. TRASTUZUMAB [Suspect]
     Active Substance: TRASTUZUMAB
     Dosage: 378.00 MILLIGRAMS Q3W - EVERY 3 WEEKS (CUMULATIVE DOSE TO FIRST REACTION :396.0 MG)
     Route: 042
     Dates: start: 20150303, end: 20151021
  81. TRASTUZUMAB [Suspect]
     Active Substance: TRASTUZUMAB
     Dosage: 378.00 MILLIGRAMS Q3W - EVERY 3 WEEKS (CUMULATIVE DOSE TO FIRST REACTION :396.0 MG)
     Route: 042
     Dates: start: 20150303, end: 20151021
  82. TRASTUZUMAB [Suspect]
     Active Substance: TRASTUZUMAB
     Dosage: 378.00 MILLIGRAMS Q3W - EVERY 3 WEEKS (CUMULATIVE DOSE TO FIRST REACTION :396.0 MG)
     Route: 042
     Dates: start: 20150303, end: 20151021
  83. TRASTUZUMAB [Suspect]
     Active Substance: TRASTUZUMAB
     Dosage: 378 MG EVERY 3 WEEKS (CUMULATIVE DOSE TO FIRST REACTION: 6048.0 MG)
     Route: 042
     Dates: start: 20160224, end: 20160406
  84. TRASTUZUMAB [Suspect]
     Active Substance: TRASTUZUMAB
     Dosage: 378 MG EVERY 3 WEEKS (CUMULATIVE DOSE TO FIRST REACTION: 6048.0 MG)
     Route: 042
     Dates: start: 20160224, end: 20160406
  85. TRASTUZUMAB [Suspect]
     Active Substance: TRASTUZUMAB
     Dosage: 378 MG EVERY 3 WEEKS (CUMULATIVE DOSE TO FIRST REACTION: 6048.0 MG)
     Route: 042
     Dates: start: 20160224, end: 20160406
  86. TRASTUZUMAB [Suspect]
     Active Substance: TRASTUZUMAB
     Dosage: 378 MG EVERY 3 WEEKS (CUMULATIVE DOSE TO FIRST REACTION: 6048.0 MG)
     Route: 042
     Dates: start: 20160224, end: 20160406
  87. TRASTUZUMAB [Suspect]
     Active Substance: TRASTUZUMAB
     Dosage: 378 MG EVERY 3 WEEKS (CUMULATIVE DOSE TO FIRST REACTION: 773.999999 MG)378 MG EVERY 2 WEEKS (CUMULAT
     Route: 042
     Dates: start: 20150210
  88. TRASTUZUMAB [Suspect]
     Active Substance: TRASTUZUMAB
     Dosage: 378 MG EVERY 3 WEEKS (CUMULATIVE DOSE TO FIRST REACTION: 773.999999 MG)378 MG EVERY 2 WEEKS (CUMULAT
     Route: 042
     Dates: start: 20150210
  89. TRASTUZUMAB [Suspect]
     Active Substance: TRASTUZUMAB
     Dosage: 378 MG EVERY 3 WEEKS (CUMULATIVE DOSE TO FIRST REACTION: 773.999999 MG)
     Route: 042
     Dates: start: 20150210
  90. TRASTUZUMAB [Suspect]
     Active Substance: TRASTUZUMAB
     Dosage: 584 MG (1 TOTAL) TOTAL LOADING DOSE EVERY 3 WEEKS)
     Route: 042
     Dates: start: 20150209, end: 20150209
  91. TRASTUZUMAB [Suspect]
     Active Substance: TRASTUZUMAB
     Dosage: 420 MILLIGRAM EVERY 3 WEEKS (CUMULATIVE DOSE TO FIRST REACTION: 4620.0 MG)
     Route: 042
     Dates: start: 20151111, end: 20151202
  92. TRASTUZUMAB [Suspect]
     Active Substance: TRASTUZUMAB
     Dosage: 399 MG, TIW (SUBSEQUENT DOSE RECEIVED ON 11/NOV/2018)
     Route: 042
     Dates: start: 20160203, end: 20160203
  93. TRASTUZUMAB [Suspect]
     Active Substance: TRASTUZUMAB
     Dosage: 378 MG, Q3W (MAINTENANCE DOSE)
     Route: 042
     Dates: start: 20150303, end: 20170201
  94. TRASTUZUMAB [Suspect]
     Active Substance: TRASTUZUMAB
     Dosage: 378 MG, TIW
     Route: 042
     Dates: start: 20170210
  95. TRASTUZUMAB [Suspect]
     Active Substance: TRASTUZUMAB
     Dosage: 378 MG, TIW (378 MILLIGRAM EVERY 3 WEEKS (CUMULATIVE DOSE: 4896.0 MG))
     Route: 042
     Dates: start: 20151222, end: 20160113
  96. TRASTUZUMAB [Suspect]
     Active Substance: TRASTUZUMAB
     Dosage: 399 MG, Q3W (399.00 MILLIGRAMS Q3W - EVERY 3 WEEKS)
     Route: 042
     Dates: start: 20151111, end: 20151202
  97. TRASTUZUMAB [Suspect]
     Active Substance: TRASTUZUMAB
     Dosage: 378 MG, TIW (378 MILLIGRAM EVERY 3 WEEKS (CUMULATIVE DOSE TO FIRST REACTION: 6048.0 MG))
     Route: 042
     Dates: start: 20160224, end: 20160406
  98. TRASTUZUMAB [Suspect]
     Active Substance: TRASTUZUMAB
     Dosage: 504 MG, QD (LOADING DOSE)
     Route: 042
     Dates: start: 20150209, end: 20150209
  99. TRASTUZUMAB [Suspect]
     Active Substance: TRASTUZUMAB
     Dosage: 399 MG, TIW (CUMULATIVE DOSE: 950.0MG)
     Route: 042
     Dates: start: 20150203, end: 20150203
  100. TRASTUZUMAB [Suspect]
     Active Substance: TRASTUZUMAB
     Dosage: 1 DOSE EVERY 3 WEEKS
     Route: 042
  101. TRASTUZUMAB [Suspect]
     Active Substance: TRASTUZUMAB
     Indication: HER2 positive breast cancer
     Dosage: 1 DOSE EVERY 3 WEEKS
     Route: 042
  102. TRASTUZUMAB [Suspect]
     Active Substance: TRASTUZUMAB
     Indication: Breast cancer
     Dosage: UNK UNK, TIW EVERY 3 WEEKS
     Route: 042
  103. TRASTUZUMAB [Suspect]
     Active Substance: TRASTUZUMAB
     Indication: Breast cancer metastatic
     Dosage: 378 MG, Q3W
     Route: 042
     Dates: start: 20160210
  104. TRASTUZUMAB [Suspect]
     Active Substance: TRASTUZUMAB
     Dosage: 420 MG, TIW (420 MILLIGRAM EVERY 3 WEEKS (CUMULATIVE DOSE: 7979.16666 MG))
     Dates: start: 20160427, end: 20170111
  105. TRASTUZUMAB [Suspect]
     Active Substance: TRASTUZUMAB
     Dosage: 240 MG
     Route: 042
     Dates: start: 20170201
  106. TRASTUZUMAB [Suspect]
     Active Substance: TRASTUZUMAB
     Dosage: 378 MG, Q3W (378.00 MILLIGRAMS Q3W- EVERY 3 WEEKS)
     Route: 042
     Dates: start: 20150303, end: 20151021
  107. TRASTUZUMAB [Suspect]
     Active Substance: TRASTUZUMAB
     Dosage: 420 MG, Q3W
     Route: 042
     Dates: start: 20160404, end: 20170111
  108. DOCETAXEL [Suspect]
     Active Substance: DOCETAXEL
     Indication: HER2 positive breast cancer
     Dosage: 130MG EVERY WEEK (SOLUTION FOR INFUSION)
     Route: 042
     Dates: start: 20150210, end: 20150708
  109. DOCETAXEL [Suspect]
     Active Substance: DOCETAXEL
     Indication: Breast cancer metastatic
     Dosage: UNK
  110. DOCETAXEL [Suspect]
     Active Substance: DOCETAXEL
     Indication: Breast cancer
     Dosage: 130 MG, EVERY 3 WEEKS
     Route: 042
     Dates: start: 20150210, end: 20150708
  111. DOCETAXEL [Suspect]
     Active Substance: DOCETAXEL
     Dosage: 130 MILLIGRAM EVERY 3 WEEKS (CUMULATIVE DOSE:266.1905 MG) NUMBER OF CYCLE PER REGIMEN 6
     Route: 042
     Dates: start: 20150210, end: 20150708
  112. DOCETAXEL [Suspect]
     Active Substance: DOCETAXEL
     Dosage: 130 MILLIGRAM EVERY 3 WEEKS (CUMULATIVE DOSE:1040 MG) NUMBER OF CYCLE PER REGIMEN 6
     Route: 042
     Dates: start: 20150210, end: 20150708
  113. DOCETAXEL [Suspect]
     Active Substance: DOCETAXEL
     Dosage: 130 MILLIGRAM (CUMULATIVE DOSE:1040 MG) NUMBER OF CYCLE PER REGIMEN 6
     Route: 042
     Dates: start: 20150210, end: 20150708
  114. DOCETAXEL [Suspect]
     Active Substance: DOCETAXEL
     Dosage: UNK
     Route: 042
     Dates: start: 20170201, end: 20170722
  115. DOCETAXEL [Suspect]
     Active Substance: DOCETAXEL
     Dosage: QD (2.5 MILLIGRAMS PER DAY (CUMULATIVE DOSE: 314.89584 G)
     Route: 048
     Dates: start: 20150729
  116. DOCETAXEL [Suspect]
     Active Substance: DOCETAXEL
     Dosage: 130 MILLIGRAM (CUMULATIVE DOSE:1040 MG) NUMBER OF CYCLE PER REGIMEN 6
     Route: 042
     Dates: start: 20150210, end: 20150708
  117. DOCETAXEL [Suspect]
     Active Substance: DOCETAXEL
     Dosage: 390 MG, EVERY 1 WEEK (130 MILLIGRAM EVERY 3 WEEKS (CUMULATIVE DOSE:266.1905 MG) NUMBER OF CYCLE REGI
     Route: 042
     Dates: start: 20150210, end: 20150708
  118. DOCETAXEL [Suspect]
     Active Substance: DOCETAXEL
     Dosage: 390 MG, EVERY 1 WEEK (130 MILLIGRAM EVERY 3 WEEKS (CUMULATIVE DOSE:266.1905 MG) NUMBER OF CYCLE REGI
     Route: 042
     Dates: start: 20150210, end: 20150708
  119. DOCETAXEL [Suspect]
     Active Substance: DOCETAXEL
     Dosage: 390 MG, 1/WEEK
     Route: 042
     Dates: start: 20150210, end: 20150708
  120. DOCETAXEL [Suspect]
     Active Substance: DOCETAXEL
     Dosage: 390 MG, 1/WEEK
     Route: 042
     Dates: start: 20150210, end: 20150708
  121. DOCETAXEL [Suspect]
     Active Substance: DOCETAXEL
     Indication: HER2 positive breast cancer
     Dosage: UNK
  122. DOCETAXEL [Suspect]
     Active Substance: DOCETAXEL
     Indication: Breast cancer metastatic
     Dosage: 130 MG, TIW
     Route: 048
     Dates: start: 20150210, end: 20150708
  123. DOCETAXEL [Suspect]
     Active Substance: DOCETAXEL
     Indication: Breast cancer
     Dosage: 130 MG, TIW  (NUMBER OF CYCLE PER REGIMEN 6)
     Route: 042
     Dates: start: 20150210, end: 20150708
  124. DOCETAXEL [Suspect]
     Active Substance: DOCETAXEL
     Dosage: 130 MG, TIW (NUMBER OF CYCLE PER REGIMEN 6)
     Route: 042
     Dates: start: 20150210, end: 20150708
  125. DOCETAXEL [Suspect]
     Active Substance: DOCETAXEL
     Dosage: UNK
     Route: 042
     Dates: start: 20170201, end: 20170722
  126. DOCETAXEL [Suspect]
     Active Substance: DOCETAXEL
     Dosage: UNK
  127. DOCETAXEL [Suspect]
     Active Substance: DOCETAXEL
     Dosage: UNK
  128. DOCETAXEL [Suspect]
     Active Substance: DOCETAXEL
     Dosage: 130 MG, TIW (NUMBER OF CYCLE PER REGIMEN 6)
     Route: 048
     Dates: start: 20150210, end: 20150708
  129. DOCETAXEL [Suspect]
     Active Substance: DOCETAXEL
     Dosage: 390 MG, EVERY 1 WEEK (130 MILLIGRAM EVERY 3 WEEKS (CUMULATIVE DOSE:266.1905 MG) NUMBER OF CYCLE PER
     Route: 042
     Dates: start: 20150210, end: 20150708
  130. DOCETAXEL [Suspect]
     Active Substance: DOCETAXEL
     Dosage: UNK
     Route: 042
     Dates: start: 20170201, end: 20170722
  131. DOCETAXEL [Suspect]
     Active Substance: DOCETAXEL
     Dosage: UNK, QD (2.5 MILLIGRAMS PER DAY (CUMULATIVE DOSE: 314.89584 G)
     Route: 048
     Dates: start: 20150729
  132. DOCETAXEL [Suspect]
     Active Substance: DOCETAXEL
     Dosage: 130 MG, QW3 (CUMULATIVE DOSE:266.1905 MG) NUMBER OF CYCLE PER REGIMEN 6)
     Route: 042
     Dates: start: 20150210, end: 20150708
  133. DOCETAXEL [Suspect]
     Active Substance: DOCETAXEL
     Dosage: 2.5 MG, QD
     Route: 042
     Dates: start: 20150729
  134. DOCETAXEL [Suspect]
     Active Substance: DOCETAXEL
     Dosage: UNK
     Route: 048
     Dates: start: 20170201, end: 20170722
  135. DOCETAXEL [Suspect]
     Active Substance: DOCETAXEL
     Indication: Product used for unknown indication
     Dosage: UNK
  136. DOCETAXEL [Suspect]
     Active Substance: DOCETAXEL
     Dosage: UNK
  137. DOCETAXEL [Suspect]
     Active Substance: DOCETAXEL
     Dosage: 2.5 MG, QD (2.5 MILLIGRAMS PER DAY (CUMULATIVE DOSE: 314.89584 G)
     Route: 048
     Dates: start: 20150729
  138. DOCETAXEL [Suspect]
     Active Substance: DOCETAXEL
     Dosage: UNK
  139. DOCETAXEL [Suspect]
     Active Substance: DOCETAXEL
     Dosage: UNK
     Route: 048
     Dates: start: 20170201, end: 20170722
  140. DOCETAXEL [Suspect]
     Active Substance: DOCETAXEL
     Dosage: UNK
  141. DOCETAXEL [Suspect]
     Active Substance: DOCETAXEL
     Dosage: 130 MG, TIW (NUMBER OF CYCLE PER REGIMEN 6)
     Route: 042
     Dates: start: 20150210, end: 20150708
  142. LETROZOLE [Suspect]
     Active Substance: LETROZOLE
     Indication: HER2 positive breast cancer
     Dosage: 2.50 MILLIGRAMS PER DAY (CUMULATIVE DOSE: 314.89584 MG)
     Route: 048
     Dates: start: 20150729
  143. LETROZOLE [Suspect]
     Active Substance: LETROZOLE
     Indication: Breast cancer metastatic
     Dosage: UNK
     Route: 048
     Dates: start: 20170201, end: 20170722
  144. LETROZOLE [Suspect]
     Active Substance: LETROZOLE
     Indication: Breast cancer
     Dosage: 2.5 MG, QD
     Route: 042
     Dates: start: 20150729
  145. LETROZOLE [Suspect]
     Active Substance: LETROZOLE
     Dosage: 2.5 MILLIGRAMS PER DAY  (CUMULATIVE DOSE: 314.89584 G)
     Route: 048
     Dates: start: 20150729
  146. LETROZOLE [Suspect]
     Active Substance: LETROZOLE
     Dosage: 2.5 MILLIGRAMS PER DAY (CUMULATIVE DOSE: 314.89584 G)
     Route: 048
     Dates: start: 20150729
  147. LETROZOLE [Suspect]
     Active Substance: LETROZOLE
     Dosage: UNK
     Route: 048
     Dates: start: 20170201, end: 20170722
  148. LETROZOLE [Suspect]
     Active Substance: LETROZOLE
     Dosage: UNK
     Route: 048
     Dates: start: 20170201, end: 20170722
  149. LETROZOLE [Suspect]
     Active Substance: LETROZOLE
     Dosage: 2.5 G (CUMULATIVE DOSE: 314.89584 G)
     Route: 042
     Dates: start: 20150729
  150. LETROZOLE [Suspect]
     Active Substance: LETROZOLE
     Dosage: 2.5 G (CUMULATIVE DOSE: 314.89584 G)
     Route: 048
     Dates: start: 20150729
  151. LETROZOLE [Suspect]
     Active Substance: LETROZOLE
     Dosage: 2.5 G (CUMULATIVE DOSE: 314.89584 G)
     Route: 048
     Dates: start: 20150729
  152. LETROZOLE [Suspect]
     Active Substance: LETROZOLE
     Dosage: 2.50 MILLIGRAMS PER DAY
     Route: 048
     Dates: start: 20150729
  153. LETROZOLE [Suspect]
     Active Substance: LETROZOLE
     Dosage: 2.50 MILLIGRAMS PER DAY
     Route: 048
     Dates: start: 20150729
  154. LETROZOLE [Suspect]
     Active Substance: LETROZOLE
     Dosage: 2.50 MILLIGRAMS PER DAY
     Route: 042
     Dates: start: 20150729
  155. LETROZOLE [Suspect]
     Active Substance: LETROZOLE
     Dosage: UNK
  156. LETROZOLE [Suspect]
     Active Substance: LETROZOLE
     Dosage: 2.5 MG, QD  (CUMULATIVE DOSE OF 314.89584 MG)
     Route: 042
     Dates: start: 20150729
  157. LETROZOLE [Suspect]
     Active Substance: LETROZOLE
     Dosage: UNK (STOP DATE:22 JUL 2017)
     Route: 042
     Dates: start: 20170201
  158. LETROZOLE [Suspect]
     Active Substance: LETROZOLE
     Dosage: 2.5 G, QD (CUMULATIVE DOSE: 314.89584 G)
     Route: 048
     Dates: start: 20150729
  159. LETROZOLE [Suspect]
     Active Substance: LETROZOLE
     Dosage: UNK
  160. LETROZOLE [Suspect]
     Active Substance: LETROZOLE
     Dosage: UNK
  161. LETROZOLE [Suspect]
     Active Substance: LETROZOLE
     Dosage: 2.5 MG, QD  (CUMULATIVE DOSE OF  2.5 MG)
     Route: 048
     Dates: start: 20150729
  162. LETROZOLE [Suspect]
     Active Substance: LETROZOLE
     Dosage: UNK (STOP DATE: 22 JUL 2017)
     Route: 042
     Dates: start: 20170201
  163. LETROZOLE [Suspect]
     Active Substance: LETROZOLE
     Dosage: 2.50 MILLIGRAMS O.D. - ONCE DAILY ORAL
     Route: 048
     Dates: start: 20150720
  164. LETROZOLE [Suspect]
     Active Substance: LETROZOLE
     Dosage: UNK
  165. LETROZOLE [Suspect]
     Active Substance: LETROZOLE
     Dosage: UNK
     Route: 042
     Dates: start: 20170201, end: 20170722
  166. LETROZOLE [Suspect]
     Active Substance: LETROZOLE
     Dosage: 2.50 MILLIGRAMS O.D. - ONCE DAILY ORAL (CUMULATIVE DOSE TO FIRST REACTION: 314.89584 MG)
     Route: 048
     Dates: start: 20150729
  167. LETROZOLE [Suspect]
     Active Substance: LETROZOLE
     Dosage: 2.5 MG, QD (CUMULATIVE DOSE TO FIRST REACTION: 292.39584 MG)
     Route: 048
     Dates: start: 20150720
  168. LETROZOLE [Suspect]
     Active Substance: LETROZOLE
     Dosage: UNK
     Route: 048
     Dates: start: 20170201
  169. LETROZOLE [Suspect]
     Active Substance: LETROZOLE
     Dosage: 2.5 MG, QD
     Route: 042
     Dates: start: 20150729
  170. PERTUZUMAB [Suspect]
     Active Substance: PERTUZUMAB
     Indication: HER2 positive breast cancer
     Dosage: 840 MG TOTAL LOADING DOSE (CUMULATIVE DOSE TO FIRST REACTION: 54564.9999 MG)
     Route: 042
     Dates: start: 20150209, end: 20150209
  171. PERTUZUMAB [Suspect]
     Active Substance: PERTUZUMAB
     Indication: Breast cancer metastatic
     Dosage: 420 MG EVERY 3 WEEKS/TIW (CUMULATIVE DOSE: 420.0 MG)
     Route: 042
     Dates: start: 20150304, end: 20170201
  172. PERTUZUMAB [Suspect]
     Active Substance: PERTUZUMAB
     Indication: Breast cancer
     Dosage: 420 MG EVERY 3 WEEKS/TIW (CUMULATIVE DOSE: 420.0 MG)
     Route: 042
     Dates: start: 20150304, end: 20170201
  173. PERTUZUMAB [Suspect]
     Active Substance: PERTUZUMAB
     Dosage: 430 EVERY 3 WEEKS MAINTENANCE DOSE
     Route: 042
  174. PERTUZUMAB [Suspect]
     Active Substance: PERTUZUMAB
     Dosage: 420 MG, EVERY 3 WEEKS/TIW (MAINTENANCE DOSE SUBSEQUENT DOSE RECEIVED ON 22/DEC/2015, 24/FEB/2016) (C
     Dates: start: 20150204
  175. PERTUZUMAB [Suspect]
     Active Substance: PERTUZUMAB
     Dosage: 420 MG, TIW (MAINTENANCE DOSE SUBSEQUENT DOSE RECEIVED ON 22/DEC/2015, 24/FEB/2016) (CUMULATIVE DOSE
     Dates: start: 20150204
  176. PERTUZUMAB [Suspect]
     Active Substance: PERTUZUMAB
     Dosage: 420 MG, TIW (MAINTENANCE DOSE SUBSEQUENT DOSE RECEIVED ON 22/DEC/2015, 24/FEB/2016) (CUMULATIVE DOSE
     Dates: start: 20150204
  177. PERTUZUMAB [Suspect]
     Active Substance: PERTUZUMAB
     Dosage: 420 MG, TIW (MAINTENANCE DOSE SUBSEQUENT DOSE RECEIVED ON 22/DEC/2015, 24/FEB/2016) (CUMULATIVE DOSE
     Dates: start: 20150204
  178. PERTUZUMAB [Suspect]
     Active Substance: PERTUZUMAB
     Dosage: 420 MG EVERY 3 WEEKS/TIW (CUMULATIVE DOSE: 420.0 MG)
     Route: 042
     Dates: start: 20150304, end: 20170201
  179. PERTUZUMAB [Suspect]
     Active Substance: PERTUZUMAB
     Dosage: 420 MG EVERY 3 WEEKS/TIW (CUMULATIVE DOSE: 420.0 MG)
     Route: 042
     Dates: start: 20150304, end: 20170201
  180. PERTUZUMAB [Suspect]
     Active Substance: PERTUZUMAB
     Dosage: 420 MG EVERY 3 WEEKS/TIW (CUMULATIVE DOSE: 420.0 MG)
     Route: 042
     Dates: start: 20150304, end: 20170201
  181. PERTUZUMAB [Suspect]
     Active Substance: PERTUZUMAB
     Dosage: 420 MG, TIW (MAINTENANCE DOSE SUBSEQUENT DOSE RECEIVED ON 22/DEC/2015, 24/FEB/2016) (CUMULATIVE DOSE
     Route: 042
     Dates: start: 20150204
  182. PERTUZUMAB [Suspect]
     Active Substance: PERTUZUMAB
     Dosage: 420 MG, TIW (MAINTENANCE DOSE SUBSEQUENT DOSE RECEIVED ON 22/DEC/2015, 24/FEB/2016) (CUMULATIVE DOSE
     Route: 042
     Dates: start: 20150204
  183. PERTUZUMAB [Suspect]
     Active Substance: PERTUZUMAB
     Dosage: 420 MG, TIW (MAINTENANCE DOSE SUBSEQUENT DOSE RECEIVED ON 22/DEC/2015, 24/FEB/2016) (CUMULATIVE DOSE
     Route: 042
     Dates: start: 20150204
  184. PERTUZUMAB [Suspect]
     Active Substance: PERTUZUMAB
     Dosage: 430 MG, TIW (MAINTENANCE DOSE SUBSEQUENT DOSE RECEIVED ON 22 DEC 2015, 24 FEB 2016); CUMULATIVE DOSE
     Route: 042
     Dates: start: 20150204
  185. PERTUZUMAB [Suspect]
     Active Substance: PERTUZUMAB
     Dosage: 430 EVERY 3 WEEKS MAINTENANCE DOSE
     Route: 042
  186. PERTUZUMAB [Suspect]
     Active Substance: PERTUZUMAB
     Dosage: 430 EVERY 3 WEEKS MAINTENANCE DOSE
     Route: 042
  187. PERTUZUMAB [Suspect]
     Active Substance: PERTUZUMAB
     Dosage: 840 MG TOTAL LOADING DOSE (CUMULATIVE DOSE TO FIRST REACTION: 54564.9999 MG)
     Route: 042
     Dates: start: 20150209, end: 20150209
  188. PERTUZUMAB [Suspect]
     Active Substance: PERTUZUMAB
     Dosage: 840 MG TOTAL LOADING DOSE (CUMULATIVE DOSE TO FIRST REACTION: 54564.9999 MG)
     Route: 042
     Dates: start: 20150209, end: 20150209
  189. PERTUZUMAB [Suspect]
     Active Substance: PERTUZUMAB
     Dosage: 840 MG TOTAL LOADING DOSE (CUMULATIVE DOSE TO FIRST REACTION: 54564.9999 MG)
     Route: 042
     Dates: start: 20150209, end: 20150209
  190. PERTUZUMAB [Suspect]
     Active Substance: PERTUZUMAB
     Dosage: 420 MG EVERY 3 WEEKS MAINTENANCE DOSE
     Route: 042
  191. PERTUZUMAB [Suspect]
     Active Substance: PERTUZUMAB
     Dosage: 840 MILLIGRAM DAILY LOADING DOSE(CUMULATIVE DOSE: 36960.0 MG)
     Route: 042
     Dates: start: 20150209, end: 20150209
  192. PERTUZUMAB [Suspect]
     Active Substance: PERTUZUMAB
     Dosage: 840 MILLIGRAM DAILY LOADING DOSE(CUMULATIVE DOSE: 36960.0 MG)
     Route: 042
     Dates: start: 20150209, end: 20150209
  193. PERTUZUMAB [Suspect]
     Active Substance: PERTUZUMAB
     Dosage: 840 MILLIGRAM DAILY LOADING DOSE(CUMULATIVE DOSE: 36960.0 MG)
     Route: 042
     Dates: start: 20150209, end: 20150209
  194. PERTUZUMAB [Suspect]
     Active Substance: PERTUZUMAB
     Dosage: 840 MILLIGRAM DAILY LOADING DOSE(CUMULATIVE DOSE: 36960.0 MG)
     Route: 042
     Dates: start: 20150209, end: 20150209
  195. PERTUZUMAB [Suspect]
     Active Substance: PERTUZUMAB
     Dosage: 840 MILLIGRAM DAILY LOADING DOSE(CUMULATIVE DOSE: 36960.0 MG)
     Route: 042
     Dates: start: 20150209, end: 20150209
  196. PERTUZUMAB [Suspect]
     Active Substance: PERTUZUMAB
     Dosage: 420 MG EVERY 3WEEKS (CUMULATIVE DOSE: 880.0 MG)
     Route: 042
     Dates: start: 20150209, end: 20170201
  197. PERTUZUMAB [Suspect]
     Active Substance: PERTUZUMAB
     Dosage: MAINTENANCE DOSE 420 MG EVERY 3 WEEKS (CUMULATIVE DOSE: 859.999999 MG)
     Route: 042
     Dates: start: 20150210
  198. PERTUZUMAB [Suspect]
     Active Substance: PERTUZUMAB
     Dosage: MAINTENANCE DOSE 420 MG EVERY 3 WEEKS (CUMULATIVE DOSE: 859.999999 MG)
     Route: 042
     Dates: start: 20150210
  199. PERTUZUMAB [Suspect]
     Active Substance: PERTUZUMAB
     Dosage: 420 MG EVERY 3 WEEKS (CUMULATIVE DOSE: 859.999999 MG)
     Route: 042
     Dates: start: 20150210
  200. PERTUZUMAB [Suspect]
     Active Substance: PERTUZUMAB
     Dosage: 420 MG EVERY 3 WEEKS (CUMULATIVE DOSE: 859.999999 MG)
     Route: 042
     Dates: start: 20150210
  201. PERTUZUMAB [Suspect]
     Active Substance: PERTUZUMAB
     Dosage: 420 MG EVERY 3 WEEKS (CUMULATIVE DOSE: 859.999999 MG)
     Route: 042
     Dates: start: 20150210
  202. PERTUZUMAB [Suspect]
     Active Substance: PERTUZUMAB
     Dosage: 420 MG TIW (MAINTENANCE DOSE SUBSEQUENT DOSE RECEIVED ON 22/DEC/2015, 24/FEB/2016)(CUMULATIVE DOSE:
     Dates: start: 20150204
  203. PERTUZUMAB [Suspect]
     Active Substance: PERTUZUMAB
     Dosage: 420 MG TIW (MAINTENANCE DOSE SUBSEQUENT DOSE RECEIVED ON 22/DEC/2015, 24/FEB/2016)(CUMULATIVE DOSE:
     Dates: start: 20150204
  204. PERTUZUMAB [Suspect]
     Active Substance: PERTUZUMAB
     Dosage: 420 MG TIW (MAINTENANCE DOSE SUBSEQUENT DOSE RECEIVED ON 22/DEC/2015, 24/FEB/2016)(CUMULATIVE DOSE:
     Dates: start: 20150204
  205. PERTUZUMAB [Suspect]
     Active Substance: PERTUZUMAB
     Dosage: 420 MG TIW (MAINTENANCE DOSE SUBSEQUENT DOSE RECEIVED ON 22/DEC/2015, 24/FEB/2016)(CUMULATIVE DOSE:
     Dates: start: 20150204
  206. PERTUZUMAB [Suspect]
     Active Substance: PERTUZUMAB
     Dosage: 420 MG TIW (MAINTENANCE DOSE SUBSEQUENT DOSE RECEIVED ON 22/DEC/2015, 24/FEB/2016)(CUMULATIVE DOSE:
     Dates: start: 20150204
  207. PERTUZUMAB [Suspect]
     Active Substance: PERTUZUMAB
     Dosage: 420 MG, EVERY 3 WEEKS (CUMULATIVE DOSE: 880.0 MG)
     Route: 042
     Dates: start: 20150209, end: 20170201
  208. PERTUZUMAB [Suspect]
     Active Substance: PERTUZUMAB
     Dosage: 420 MG, EVERY 3 WEEKS (CUMULATIVE DOSE: 880.0 MG)
     Route: 042
     Dates: start: 20150209, end: 20170201
  209. PERTUZUMAB [Suspect]
     Active Substance: PERTUZUMAB
     Dosage: 420 MG, EVERY 3 WEEKS (CUMULATIVE DOSE: 880.0 MG)
     Route: 042
     Dates: start: 20150209, end: 20170201
  210. PERTUZUMAB [Suspect]
     Active Substance: PERTUZUMAB
     Dosage: 420 MG, EVERY 3 WEEKS (CUMULATIVE DOSE: 880.0 MG)
     Route: 042
     Dates: start: 20150209, end: 20170201
  211. PERTUZUMAB [Suspect]
     Active Substance: PERTUZUMAB
     Dosage: 840 MG, QD (LOADING DOSE)
     Route: 048
     Dates: start: 20150209, end: 20150209
  212. PERTUZUMAB [Suspect]
     Active Substance: PERTUZUMAB
     Dosage: 420 MG, TIW
     Route: 048
     Dates: start: 20150304, end: 20170201
  213. PERTUZUMAB [Suspect]
     Active Substance: PERTUZUMAB
     Dosage: 840 MG, QD (LOADING DOSE) (CUMULATIVE DOSE: 880.0 MG)
     Route: 048
     Dates: start: 20150209, end: 20150209
  214. PERTUZUMAB [Suspect]
     Active Substance: PERTUZUMAB
     Dosage: 420 MG, TIW (LOADING DOSE)
     Route: 042
     Dates: start: 20150209, end: 20150209
  215. PERTUZUMAB [Suspect]
     Active Substance: PERTUZUMAB
     Dosage: 420 MG, TIW (CUMULATIVE DOSE: 880 MG)
     Route: 042
     Dates: start: 20150209, end: 20170201
  216. PERTUZUMAB [Suspect]
     Active Substance: PERTUZUMAB
     Dosage: 420 MG, TIW (CUMULATIVE DOSE: 859.999999 MG)
     Route: 042
     Dates: start: 20150210
  217. PERTUZUMAB [Suspect]
     Active Substance: PERTUZUMAB
     Dosage: 840 MG, QD (LOADING DOSE)
     Route: 042
     Dates: start: 20150209, end: 20150209
  218. PERTUZUMAB [Suspect]
     Active Substance: PERTUZUMAB
     Dosage: 420 MG, TIW (MAINTENANCE DOSE SUBSEQUENT DOSE RECEIVED ON 22/DEC/2015, 24/FEB/2016) (CUMULATIVE DOSE
     Route: 042
     Dates: start: 20150204
  219. PERTUZUMAB [Suspect]
     Active Substance: PERTUZUMAB
     Dosage: 430 MG, TIW (MAINTENANCE DOSE)
     Route: 042
  220. PERTUZUMAB [Suspect]
     Active Substance: PERTUZUMAB
     Indication: HER2 positive breast cancer
     Dosage: 420 MG EVERY 3 WEEKS (MAINTENANCE DOSE)
     Route: 042
     Dates: start: 20150210
  221. PERTUZUMAB [Suspect]
     Active Substance: PERTUZUMAB
     Indication: Breast cancer metastatic
     Dosage: 430 MG, TIW MAINTENANCE DOSE
     Route: 042
  222. PERTUZUMAB [Suspect]
     Active Substance: PERTUZUMAB
     Indication: Breast cancer
     Dosage: 420 MG, TIW
     Route: 042
     Dates: start: 20150209, end: 20170201
  223. PERTUZUMAB [Suspect]
     Active Substance: PERTUZUMAB
     Indication: Breast cancer metastatic
     Dosage: 430 MG, TIW (MAINTENANCE DOSE SUBSEQUENT DOSE RECEIVED ON 22 DEC 2015, 24 FEB 2016) (CUMULATIVE DOSE
     Route: 042
     Dates: start: 20150204
  224. PERTUZUMAB [Suspect]
     Active Substance: PERTUZUMAB
     Indication: Breast cancer
     Dosage: 840 MG TIW (LOADING DOSE)(CUMULATIVE DOSE: 1760.0 MG)
     Route: 042
     Dates: start: 20150209, end: 20150209
  225. PERTUZUMAB [Suspect]
     Active Substance: PERTUZUMAB
     Dosage: 420 MG EVERY 3 WEEKS/TIW (CUMULATIVE DOSE: 420.0 MG)
     Route: 042
     Dates: start: 20150304, end: 20170201
  226. PERTUZUMAB [Suspect]
     Active Substance: PERTUZUMAB
     Dosage: 430 MG (430 EVERY 3 WEEKS MAINTENANCE DOSE)
     Route: 042
  227. PERTUZUMAB [Suspect]
     Active Substance: PERTUZUMAB
     Dosage: 420 MG EVERY 3 WEEKS MAINTENANCE DOSE
     Route: 042
  228. PERTUZUMAB [Suspect]
     Active Substance: PERTUZUMAB
     Dosage: 420 MG, TIW (MAINTENANCE DOSE SUBSEQUENT DOSE RECEIVED ON 22/DEC/2015, 24/FEB/2016) (CUMULATIVE DOSE
     Route: 042
     Dates: start: 20150204
  229. PERTUZUMAB [Suspect]
     Active Substance: PERTUZUMAB
     Dosage: 420 MG, TIW (MAINTENANCE DOSE SUBSEQUENT DOSE RECEIVED ON 22/DEC/2015, 24/FEB/2016) (CUMULATIVE DOSE
     Route: 042
     Dates: start: 20150204
  230. PERTUZUMAB [Suspect]
     Active Substance: PERTUZUMAB
     Dosage: 430 MG, TIW MAINTENANCE DOSE
     Route: 042
  231. PERTUZUMAB [Suspect]
     Active Substance: PERTUZUMAB
     Dosage: 420 MG, TIW (MAINTENANCE DOSE)
     Route: 042
     Dates: start: 20150210
  232. PERTUZUMAB [Suspect]
     Active Substance: PERTUZUMAB
     Dosage: 840 MG, QD (LOADING DOSE)
     Route: 042
     Dates: start: 20150209, end: 20150209
  233. PERTUZUMAB [Suspect]
     Active Substance: PERTUZUMAB
     Dosage: 420 MG, TIW
     Route: 042
     Dates: start: 20150209, end: 20170201
  234. PERTUZUMAB [Suspect]
     Active Substance: PERTUZUMAB
     Dosage: 430 EVERY 3 WEEKS MAINTENANCE DOSE
     Route: 042
  235. PERTUZUMAB [Suspect]
     Active Substance: PERTUZUMAB
     Dosage: 430 MG, TIW (MAINTENANCE DOSE)
     Route: 042
  236. PERTUZUMAB [Suspect]
     Active Substance: PERTUZUMAB
     Dosage: 420 MG, TIW
     Route: 042
     Dates: start: 20150304, end: 20170201
  237. PERTUZUMAB [Suspect]
     Active Substance: PERTUZUMAB
     Dosage: 430 EVERY 3 WEEKS MAINTENANCE DOSE
     Route: 042
  238. PERTUZUMAB [Suspect]
     Active Substance: PERTUZUMAB
     Dosage: 420 MG, TIW (MAINTENANCE DOSE SUBSEQUENT DOSE RECEIVED ON 22/DEC/2015, 24/FEB/2016)
     Dates: start: 20150204
  239. PERTUZUMAB [Suspect]
     Active Substance: PERTUZUMAB
     Dosage: 430 MG, TIW (MAINTENANCE DOSE SUBSEQUENT DOSE RECEIVED ON 22 DEC 2015, 24 FEB 2016)
     Route: 042
     Dates: start: 20150204
  240. PERTUZUMAB [Suspect]
     Active Substance: PERTUZUMAB
     Dosage: 430 MG (430 EVERY 3 WEEKS MAINTENANCE DOSE)
     Route: 042
  241. PERTUZUMAB [Suspect]
     Active Substance: PERTUZUMAB
     Dosage: 420 MG, TIW (EVERY 3 WEEKS (CUMULATIVE DOSE: 880.0 MG))
     Route: 042
     Dates: start: 20150209, end: 20170201
  242. PERTUZUMAB [Suspect]
     Active Substance: PERTUZUMAB
     Dosage: 420 MG, TIW (MAINTENANCE DOSE)
     Route: 042
  243. PERTUZUMAB [Suspect]
     Active Substance: PERTUZUMAB
     Dosage: 840 MG, QD LOADING DOSE
     Route: 042
     Dates: start: 20150209, end: 20150209
  244. PERTUZUMAB [Suspect]
     Active Substance: PERTUZUMAB
     Dosage: 420 MG EVERY 3 WEEKS MAINTENANCE DOSE
     Route: 042
  245. ADO-TRASTUZUMAB EMTANSINE [Suspect]
     Active Substance: ADO-TRASTUZUMAB EMTANSINE
     Indication: Breast cancer metastatic
     Dosage: 504 MG, QD
     Route: 042
  246. ADO-TRASTUZUMAB EMTANSINE [Suspect]
     Active Substance: ADO-TRASTUZUMAB EMTANSINE
     Indication: HER2 positive breast cancer
     Dosage: UNK
     Route: 042
  247. ADO-TRASTUZUMAB EMTANSINE [Suspect]
     Active Substance: ADO-TRASTUZUMAB EMTANSINE
     Indication: Breast cancer metastatic
     Dosage: 240 MG EVERY 3 WEEKS (CUMULATIVE DOSE: 7760.0 MG)
     Route: 042
     Dates: start: 20170201, end: 20170722
  248. ADO-TRASTUZUMAB EMTANSINE [Suspect]
     Active Substance: ADO-TRASTUZUMAB EMTANSINE
     Indication: Breast cancer
     Dosage: 240 MG EVERY 3 WEEKS (CUMULATIVE DOSE: 7760.0 MG)
     Route: 042
     Dates: start: 20170201, end: 20170722
  249. ADO-TRASTUZUMAB EMTANSINE [Suspect]
     Active Substance: ADO-TRASTUZUMAB EMTANSINE
     Dosage: 230 MILLIGRAM EVERY 3 WEEKS (CUMULATIVE DOSE: 9582.877 MG)
     Route: 042
     Dates: start: 20170816
  250. ADO-TRASTUZUMAB EMTANSINE [Suspect]
     Active Substance: ADO-TRASTUZUMAB EMTANSINE
     Dosage: 230 MILLIGRAM EVERY 3 WEEKS (CUMULATIVE DOSE: 9582.877 MG)
     Route: 042
     Dates: start: 20170816
  251. ADO-TRASTUZUMAB EMTANSINE [Suspect]
     Active Substance: ADO-TRASTUZUMAB EMTANSINE
     Dosage: UNK
     Route: 042
  252. ADO-TRASTUZUMAB EMTANSINE [Suspect]
     Active Substance: ADO-TRASTUZUMAB EMTANSINE
     Dosage: UNK
  253. ADO-TRASTUZUMAB EMTANSINE [Suspect]
     Active Substance: ADO-TRASTUZUMAB EMTANSINE
     Dosage: 240 MG, TIW (CUMULATIVE DOSE: 7760.0 MG)
     Route: 042
     Dates: start: 20170201, end: 20170722
  254. ADO-TRASTUZUMAB EMTANSINE [Suspect]
     Active Substance: ADO-TRASTUZUMAB EMTANSINE
     Dosage: 504 MG, QD (LOADING DOSE)
     Route: 042
  255. ADO-TRASTUZUMAB EMTANSINE [Suspect]
     Active Substance: ADO-TRASTUZUMAB EMTANSINE
     Dosage: 230 MG, TIW (CUMULATIVE DOSE: 9582.877 MG)
     Route: 042
     Dates: start: 20170816
  256. ADO-TRASTUZUMAB EMTANSINE [Suspect]
     Active Substance: ADO-TRASTUZUMAB EMTANSINE
     Dosage: 240 MG, Q3W (CUMULATIVE DOSE: 6320.476 MG)
     Route: 042
     Dates: start: 20170201, end: 20170722
  257. ADO-TRASTUZUMAB EMTANSINE [Suspect]
     Active Substance: ADO-TRASTUZUMAB EMTANSINE
     Dosage: 230 MG, TIW (CUMULATIVE DOSE: 8203.333 MG)
     Route: 042
     Dates: start: 20170816
  258. ADO-TRASTUZUMAB EMTANSINE [Suspect]
     Active Substance: ADO-TRASTUZUMAB EMTANSINE
     Dosage: 230 MILLIGRAM EVERY 3 WEEKS
     Route: 042
     Dates: start: 20170816
  259. CALCIUM CARBONATE\CHOLECALCIFEROL [Concomitant]
     Active Substance: CALCIUM CARBONATE\CHOLECALCIFEROL
     Indication: Prophylaxis
     Dosage: 1.5 G, BID (PROPHALATIC TREATMENT WITH LETROZOLE)
     Route: 048
     Dates: start: 20150629, end: 20151202
  260. CALCIUM CARBONATE\CHOLECALCIFEROL [Concomitant]
     Active Substance: CALCIUM CARBONATE\CHOLECALCIFEROL
     Dosage: .5 G, BID (PROPHALATIC TREATMENT WITH LETROZOLE) (UNCOATED, ORAL)
     Route: 048
     Dates: start: 20150729, end: 20151202
  261. CALCIUM CARBONATE\CHOLECALCIFEROL [Concomitant]
     Active Substance: CALCIUM CARBONATE\CHOLECALCIFEROL
     Dosage: 1.5 G  (UNCOATED, ORAL)
     Route: 048
     Dates: start: 20150729, end: 20151202
  262. CALCIUM CARBONATE\CHOLECALCIFEROL [Concomitant]
     Active Substance: CALCIUM CARBONATE\CHOLECALCIFEROL
     Dosage: 4.5 G  (UNCOATED, ORAL) (CUMULATIVE DOSE TO FIRST REACTION: 1044.1875 G)
     Route: 048
     Dates: start: 20151203, end: 20190813
  263. CALCIUM CARBONATE\CHOLECALCIFEROL [Concomitant]
     Active Substance: CALCIUM CARBONATE\CHOLECALCIFEROL
     Dosage: 1.5 G (0.5 PER DAY)
     Dates: start: 20150729, end: 20151202
  264. CALCIUM CARBONATE\CHOLECALCIFEROL [Concomitant]
     Active Substance: CALCIUM CARBONATE\CHOLECALCIFEROL
     Dosage: 1.5 G
     Route: 048
     Dates: start: 20151203, end: 20190813
  265. CALCIUM CARBONATE\CHOLECALCIFEROL [Concomitant]
     Active Substance: CALCIUM CARBONATE\CHOLECALCIFEROL
     Dosage: 1.5 (0.33 PER DAY)
     Dates: start: 20151203, end: 20190813
  266. CALCIUM CARBONATE\CHOLECALCIFEROL [Concomitant]
     Active Substance: CALCIUM CARBONATE\CHOLECALCIFEROL
     Dosage: 3G, QD (UNCOATED, ORAL) (CUMULATIVE DOSE TO FIRST REACTION: 315.0 G)
     Route: 048
     Dates: start: 20150729, end: 20151202
  267. CALCIUM CARBONATE\CHOLECALCIFEROL [Concomitant]
     Active Substance: CALCIUM CARBONATE\CHOLECALCIFEROL
     Dosage: 3G, QD (UNCOATED, ORAL) (CUMULATIVE DOSE TO FIRST REACTION: 377.875 G)
     Route: 048
     Dates: start: 20150729, end: 20151202
  268. CALCIUM CARBONATE\CHOLECALCIFEROL [Concomitant]
     Active Substance: CALCIUM CARBONATE\CHOLECALCIFEROL
     Dosage: 4.5 MG DAILY (UNCOATED, ORAL) (CUMULATIVE DOSE: 1138.5 G)
     Route: 048
     Dates: start: 20151203, end: 20190813
  269. CALCIUM CARBONATE\CHOLECALCIFEROL [Concomitant]
     Active Substance: CALCIUM CARBONATE\CHOLECALCIFEROL
     Dosage: 1.5 G, TID (0.33 DAY)
     Route: 048
     Dates: start: 20151203, end: 20190813
  270. CALCIUM CARBONATE\CHOLECALCIFEROL [Concomitant]
     Active Substance: CALCIUM CARBONATE\CHOLECALCIFEROL
     Dosage: 1.5 G, BID
     Dates: start: 20150729, end: 20151202
  271. CALCIUM CARBONATE\CHOLECALCIFEROL [Concomitant]
     Active Substance: CALCIUM CARBONATE\CHOLECALCIFEROL
     Dosage: 1.5 G, TID (0.33 DAY)
     Route: 048
     Dates: start: 20151203, end: 20190813
  272. CALCIUM CARBONATE\CHOLECALCIFEROL [Concomitant]
     Active Substance: CALCIUM CARBONATE\CHOLECALCIFEROL
     Dosage: 1.5 G, BID
     Dates: start: 20150729, end: 20151202
  273. CALCIUM CARBONATE\CHOLECALCIFEROL [Concomitant]
     Active Substance: CALCIUM CARBONATE\CHOLECALCIFEROL
     Dosage: 1.5 G
     Dates: start: 20150729, end: 20151202
  274. CALCIUM CARBONATE\CHOLECALCIFEROL [Concomitant]
     Active Substance: CALCIUM CARBONATE\CHOLECALCIFEROL
     Dosage: 1.5 G, TID (0.33 DAY)
     Route: 048
     Dates: start: 20151203, end: 20190813
  275. CALCIUM CARBONATE\CHOLECALCIFEROL [Concomitant]
     Active Substance: CALCIUM CARBONATE\CHOLECALCIFEROL
     Dosage: 1.5 G
     Dates: start: 20150729, end: 20151202
  276. CALCIUM CARBONATE\CHOLECALCIFEROL [Concomitant]
     Active Substance: CALCIUM CARBONATE\CHOLECALCIFEROL
     Dosage: 1.5 G
     Dates: start: 20151203, end: 20190813
  277. CALCIUM CARBONATE\CHOLECALCIFEROL [Concomitant]
     Active Substance: CALCIUM CARBONATE\CHOLECALCIFEROL
     Dosage: 1.5 G, BID
     Dates: start: 20150729, end: 20151202
  278. CALCIUM CARBONATE\CHOLECALCIFEROL [Concomitant]
     Active Substance: CALCIUM CARBONATE\CHOLECALCIFEROL
     Dosage: 1.5 G
     Route: 048
     Dates: start: 20150729, end: 20151202
  279. CALCIUM CARBONATE\CHOLECALCIFEROL [Concomitant]
     Active Substance: CALCIUM CARBONATE\CHOLECALCIFEROL
     Dosage: 3 G, QD CUMULATIVE DOSE TO FIRST REACTION: 3.0 G
     Route: 048
     Dates: start: 20150729, end: 20151202
  280. CALCIUM CARBONATE\CHOLECALCIFEROL [Concomitant]
     Active Substance: CALCIUM CARBONATE\CHOLECALCIFEROL
     Dosage: 4.5 G, QD CUMULATIVE DOSE TO FIRST REACTION: 571.6875 G
     Route: 048
     Dates: start: 20150312, end: 20151202
  281. CALCIUM CARBONATE\CHOLECALCIFEROL [Concomitant]
     Active Substance: CALCIUM CARBONATE\CHOLECALCIFEROL
     Dosage: 1.5 G
     Route: 048
     Dates: start: 20150312
  282. CALCIUM CARBONATE\CHOLECALCIFEROL [Concomitant]
     Active Substance: CALCIUM CARBONATE\CHOLECALCIFEROL
     Dosage: 3 G, QD (CUMULATIVE DOSE TO FIRST REACTION: 377.875 G)
     Route: 048
     Dates: start: 20150729, end: 20151202
  283. CALCIUM CARBONATE\CHOLECALCIFEROL [Concomitant]
     Active Substance: CALCIUM CARBONATE\CHOLECALCIFEROL
     Dosage: 4.5 G, QD (CUMULATIVE DOSE TO FIRST REACTION: 1138.5 G)
     Route: 048
     Dates: start: 20151203, end: 20180813
  284. AMOXICILLIN [Concomitant]
     Active Substance: AMOXICILLIN
     Indication: Swelling face
     Dosage: 1500 MG, QD(UNCOATED, ORAL)(CUMULATIVE DOSE TO FIRST REACTION: 735000.0 MG)
     Route: 048
     Dates: start: 20160817, end: 20160821
  285. AMOXICILLIN [Concomitant]
     Active Substance: AMOXICILLIN
     Dosage: 500 MG, QD (UNCOATED, ORAL)
     Route: 048
     Dates: start: 20170821, end: 20170826
  286. AMOXICILLIN [Concomitant]
     Active Substance: AMOXICILLIN
     Dosage: 500 MG, TID (0.33 DAY)
     Route: 048
     Dates: start: 20161016, end: 20161023
  287. AMOXICILLIN [Concomitant]
     Active Substance: AMOXICILLIN
     Dosage: 500 MG, (0.33 DAY)
     Route: 048
     Dates: start: 20160817, end: 20160821
  288. AMOXICILLIN [Concomitant]
     Active Substance: AMOXICILLIN
     Dosage: 500 MG, (0.33 DAY)
     Dates: start: 20170821, end: 20170826
  289. AMOXICILLIN [Concomitant]
     Active Substance: AMOXICILLIN
     Dosage: 1500 MG, QD (UNCOATED, ORAL)  (CUMULATIVE DOSE TO FIRST REACTION: 1288500.0 MG)
     Route: 048
     Dates: start: 20160821, end: 20160826
  290. AMOXICILLIN [Concomitant]
     Active Substance: AMOXICILLIN
     Dosage: 1500 MG QD (UNCOATED, ORAL)(CUMULATIVE DOSE TO FIRST REACTION: 825000.0 MG)
     Route: 048
     Dates: start: 20161016
  291. AMOXICILLIN [Concomitant]
     Active Substance: AMOXICILLIN
     Dosage: 1500 MG, QD(UNCOATED, ORAL)(CUMULATIVE DOSE TO FIRST REACTION: 766437.5 MG)
     Route: 048
     Dates: start: 20160817, end: 20160821
  292. AMOXICILLIN [Concomitant]
     Active Substance: AMOXICILLIN
     Dosage: 1500 MG, QD (UNCOATED, ORAL) CUMULATIVE DOSE: 1319937.5 MG)
     Route: 048
     Dates: start: 20170821, end: 20170826
  293. AMOXICILLIN [Concomitant]
     Active Substance: AMOXICILLIN
     Dosage: 1500 MG (UNCOATED, ORAL) (CUMULATIVE DOSE: 856437.5 MG)
     Route: 048
     Dates: start: 20161016, end: 20161023
  294. AMOXICILLIN [Concomitant]
     Active Substance: AMOXICILLIN
     Dosage: 500 MG, TID (0.33 DAY)
     Route: 048
     Dates: start: 20160817, end: 20160821
  295. AMOXICILLIN [Concomitant]
     Active Substance: AMOXICILLIN
     Dosage: 500 MG (SUBSEQUENT DOSE RECEIVED ON 21/AUG/2017)
     Route: 048
     Dates: start: 20161016, end: 20161023
  296. AMOXICILLIN [Concomitant]
     Active Substance: AMOXICILLIN
     Dosage: 500 MG, TID (0.33 DAY)
     Route: 048
     Dates: start: 20161015, end: 20161023
  297. AMOXICILLIN [Concomitant]
     Active Substance: AMOXICILLIN
     Dosage: 500 MG, TID (0.33 DAY)
     Route: 048
     Dates: start: 20170821, end: 20170826
  298. AMOXICILLIN [Concomitant]
     Active Substance: AMOXICILLIN
     Dosage: 500 MG, TID (0.33 DAY)
     Route: 048
     Dates: start: 20160816
  299. AMOXICILLIN [Concomitant]
     Active Substance: AMOXICILLIN
     Dosage: 1500 MG, QD(UNCOATED, ORAL)(CUMULATIVE DOSE TO FIRST REACTION: 766437.5 MG)
     Route: 048
     Dates: start: 20160817, end: 20160821
  300. AMOXICILLIN [Concomitant]
     Active Substance: AMOXICILLIN
     Dosage: 1500 MG (UNCOATED, ORAL) (CUMULATIVE DOSE: 856437.5 MG)
     Route: 048
     Dates: start: 20161016
  301. AMOXICILLIN [Concomitant]
     Active Substance: AMOXICILLIN
     Dosage: 500 MG, TID (0.33 DAY)
     Route: 048
     Dates: start: 20170821, end: 20170826
  302. AMOXICILLIN [Concomitant]
     Active Substance: AMOXICILLIN
     Dosage: 500 MG
     Dates: start: 20161015, end: 20161023
  303. AMOXICILLIN [Concomitant]
     Active Substance: AMOXICILLIN
     Dosage: 500 MG, (0.33 DAY)
     Dates: start: 20170821, end: 20170826
  304. AMOXICILLIN [Concomitant]
     Active Substance: AMOXICILLIN
     Dosage: 500 MG
     Dates: start: 20170821, end: 20170826
  305. AMOXICILLIN [Concomitant]
     Active Substance: AMOXICILLIN
     Dosage: 500 MG
     Dates: start: 20160817, end: 20160821
  306. AMOXICILLIN [Concomitant]
     Active Substance: AMOXICILLIN
     Dosage: 1500 MG, TID (0.33 DAY)
     Route: 048
     Dates: start: 20160816
  307. AMOXICILLIN [Concomitant]
     Active Substance: AMOXICILLIN
     Dosage: 500 MG CUMULATIVE DOSE TO FIRST REACTION: 7500 MG
     Dates: start: 20170821, end: 20170826
  308. AMOXICILLIN [Concomitant]
     Active Substance: AMOXICILLIN
     Dosage: 1500 MG, QD CUMULATIVE DOSE TO FIRST REACTION: 7500 MG
     Route: 048
     Dates: start: 20160817, end: 20160821
  309. AMOXICILLIN [Concomitant]
     Active Substance: AMOXICILLIN
     Dosage: 500 MG CUMULATIVE DOSE TO FIRST REACTION: 7500 MG
     Route: 048
     Dates: start: 20161016
  310. AMOXICILLIN [Concomitant]
     Active Substance: AMOXICILLIN
     Dosage: 500 MG CUMULATIVE DOSE TO FIRST REACTION: 7500 MG
     Route: 048
     Dates: start: 20160817, end: 20160821
  311. AMOXICILLIN [Concomitant]
     Active Substance: AMOXICILLIN
     Dosage: 1500 MG, QD CUMULATIVE DOSE TO FIRST REACTION: 7500 MG
     Route: 048
     Dates: start: 20161016
  312. AMOXICILLIN [Concomitant]
     Active Substance: AMOXICILLIN
     Dosage: 500 MG (0.33 DAY)
     Dates: start: 20161015, end: 20161023
  313. AMOXICILLIN [Concomitant]
     Active Substance: AMOXICILLIN
     Dosage: 500 MILLIGRAM (0.33 DAY)
     Dates: start: 20160816, end: 20160821
  314. AMOXICILLIN [Concomitant]
     Active Substance: AMOXICILLIN
     Dosage: 500 MG, TID (0.33 DAY)
     Route: 048
     Dates: start: 20160816, end: 20160821
  315. AMOXICILLIN [Concomitant]
     Active Substance: AMOXICILLIN
     Dosage: 500 MG, TID (0.33 DAY)
     Route: 048
     Dates: start: 20160816
  316. AMOXICILLIN [Concomitant]
     Active Substance: AMOXICILLIN
     Dosage: 1500 MG, TID (0.33 DAY)
     Route: 048
     Dates: start: 20161015, end: 20161023
  317. AMOXICILLIN [Concomitant]
     Active Substance: AMOXICILLIN
     Dosage: 1500 MG (500 MG TID (0.33 DAY)
     Route: 048
     Dates: start: 20161016, end: 20161023
  318. AMOXICILLIN [Concomitant]
     Active Substance: AMOXICILLIN
     Dosage: 1500 MG, QD (CUMULATIVE DOSE TO FIRST REACTION: 764937.5 MG)
     Route: 048
     Dates: start: 20160816, end: 20160821
  319. AMOXICILLIN [Concomitant]
     Active Substance: AMOXICILLIN
     Dosage: 1500 MG, QD (CUMULATIVE DOSE TO FIRST REACTION: 854937.5 MG)
     Route: 048
     Dates: start: 20161015, end: 20161023
  320. AMOXICILLIN [Concomitant]
     Active Substance: AMOXICILLIN
     Dosage: 1500 MG, QD (CUMULATIVE DOSE TO FIRST REACTION: 1319937.5 MG)
     Route: 048
     Dates: start: 20170821, end: 20170826
  321. AMOXICILLIN [Concomitant]
     Active Substance: AMOXICILLIN
     Dosage: 500 MG, TID (CUMULATIVE DOSE TO FIRST REACTION: 9000 MG)
     Route: 048
     Dates: start: 20160816, end: 20160821
  322. AMOXICILLIN [Concomitant]
     Active Substance: AMOXICILLIN
     Dosage: 500 MG, TID (CUMULATIVE DOSE TO FIRST REACTION: 9000 MG)
     Route: 048
     Dates: start: 20160815, end: 20160823
  323. AMOXICILLIN [Concomitant]
     Active Substance: AMOXICILLIN
     Dosage: 500 MG, TID
     Route: 048
     Dates: start: 20160816, end: 20160821
  324. AMOXICILLIN [Concomitant]
     Active Substance: AMOXICILLIN
     Dosage: 500 MG, TID
     Route: 048
     Dates: start: 20161015, end: 20161023
  325. AMOXICILLIN [Concomitant]
     Active Substance: AMOXICILLIN
     Dosage: 500 MG, TID
     Route: 048
     Dates: start: 20170821, end: 20170826
  326. CHLORHEXIDINE GLUCONATE [Concomitant]
     Active Substance: CHLORHEXIDINE GLUCONATE
     Indication: Product used for unknown indication
     Dosage: 10 ML
     Dates: start: 20171001, end: 20171008
  327. CHLORHEXIDINE GLUCONATE [Concomitant]
     Active Substance: CHLORHEXIDINE GLUCONATE
     Dosage: UNK
  328. CHLORHEXIDINE GLUCONATE [Concomitant]
     Active Substance: CHLORHEXIDINE GLUCONATE
     Dosage: UNK
  329. AMOXICILLIN\CLAVULANATE POTASSIUM [Concomitant]
     Active Substance: AMOXICILLIN\CLAVULANATE POTASSIUM
     Indication: Product used for unknown indication
     Dosage: 1500 MG, QD
     Route: 048
     Dates: start: 20171001, end: 20171008
  330. AMOXICILLIN\CLAVULANATE POTASSIUM [Concomitant]
     Active Substance: AMOXICILLIN\CLAVULANATE POTASSIUM
     Dosage: 500 MG
     Route: 048
     Dates: start: 20190530, end: 20190606
  331. AMOXICILLIN\CLAVULANATE POTASSIUM [Concomitant]
     Active Substance: AMOXICILLIN\CLAVULANATE POTASSIUM
     Dosage: 800 MG, QD, 400 MG, BID (CUMULATIVE DOSE: 760000.0 MG)
     Route: 048
     Dates: start: 20171030, end: 20171105
  332. AMOXICILLIN\CLAVULANATE POTASSIUM [Concomitant]
     Active Substance: AMOXICILLIN\CLAVULANATE POTASSIUM
     Dosage: 500 MG, QD
     Route: 048
     Dates: start: 20170926
  333. AMOXICILLIN\CLAVULANATE POTASSIUM [Concomitant]
     Active Substance: AMOXICILLIN\CLAVULANATE POTASSIUM
     Dosage: 1500 MG, QD SUBSEQUENT DOSE RECEIVED ON 30?MAY/2019/TID CUMULATIVE DOSE TO FIRST REACTION: 1705500.0
     Route: 048
     Dates: start: 20180526, end: 20180601
  334. AMOXICILLIN\CLAVULANATE POTASSIUM [Concomitant]
     Active Substance: AMOXICILLIN\CLAVULANATE POTASSIUM
     Dosage: 1500 MG, QD
     Route: 048
     Dates: start: 20190530, end: 20190606
  335. AMOXICILLIN\CLAVULANATE POTASSIUM [Concomitant]
     Active Substance: AMOXICILLIN\CLAVULANATE POTASSIUM
     Dosage: 500 MG
     Route: 048
     Dates: start: 20171001, end: 20171008
  336. AMOXICILLIN\CLAVULANATE POTASSIUM [Concomitant]
     Active Substance: AMOXICILLIN\CLAVULANATE POTASSIUM
     Dosage: 500 MG, TID (CUMULATIVE DOSE: 1736937.5 MG)
     Route: 048
     Dates: start: 20180526, end: 20180601
  337. AMOXICILLIN\CLAVULANATE POTASSIUM [Concomitant]
     Active Substance: AMOXICILLIN\CLAVULANATE POTASSIUM
     Dosage: 400 MG, BID (0.5 DAY)
     Route: 048
     Dates: start: 20171030, end: 20171105
  338. AMOXICILLIN\CLAVULANATE POTASSIUM [Concomitant]
     Active Substance: AMOXICILLIN\CLAVULANATE POTASSIUM
     Dosage: 1500 MG, QD SUBSEQUENT DOSE RECEIVED ON 30?MAY/2019/TID CUMULATIVE DOSE TO FIRST REACTION: 1705500.0
     Route: 048
     Dates: start: 20180526, end: 20180601
  339. AMOXICILLIN\CLAVULANATE POTASSIUM [Concomitant]
     Active Substance: AMOXICILLIN\CLAVULANATE POTASSIUM
     Dosage: 800 MG, QD, 400 MG, BID (CUMULATIVE DOSE: 760000.0 MG)
     Dates: start: 20171030, end: 20171105
  340. AMOXICILLIN\CLAVULANATE POTASSIUM [Concomitant]
     Active Substance: AMOXICILLIN\CLAVULANATE POTASSIUM
     Dosage: 1500 MG, QD SUBSEQUENT DOSE RECEIVED ON 30?MAY/2019/TID CUMULATIVE DOSE TO FIRST REACTION: 1705500.0
     Route: 048
     Dates: start: 20180526, end: 20180601
  341. AMOXICILLIN\CLAVULANATE POTASSIUM [Concomitant]
     Active Substance: AMOXICILLIN\CLAVULANATE POTASSIUM
     Dosage: 500 MG
     Route: 048
     Dates: start: 20190530, end: 20190606
  342. AMOXICILLIN\CLAVULANATE POTASSIUM [Concomitant]
     Active Substance: AMOXICILLIN\CLAVULANATE POTASSIUM
     Dosage: 500 MG
     Route: 048
     Dates: start: 20180526, end: 20180601
  343. AMOXICILLIN\CLAVULANATE POTASSIUM [Concomitant]
     Active Substance: AMOXICILLIN\CLAVULANATE POTASSIUM
     Dosage: 400 MG
     Route: 048
     Dates: start: 20171030, end: 20171111
  344. AMOXICILLIN\CLAVULANATE POTASSIUM [Concomitant]
     Active Substance: AMOXICILLIN\CLAVULANATE POTASSIUM
     Dosage: 500 MG
     Dates: start: 20171001, end: 20171008
  345. AMOXICILLIN\CLAVULANATE POTASSIUM [Concomitant]
     Active Substance: AMOXICILLIN\CLAVULANATE POTASSIUM
     Dosage: 500 MG
     Dates: start: 20190530, end: 20190606
  346. AMOXICILLIN\CLAVULANATE POTASSIUM [Concomitant]
     Active Substance: AMOXICILLIN\CLAVULANATE POTASSIUM
     Dosage: 500 MG
     Dates: start: 20170926
  347. AMOXICILLIN\CLAVULANATE POTASSIUM [Concomitant]
     Active Substance: AMOXICILLIN\CLAVULANATE POTASSIUM
     Dosage: 500 MG, TID
     Dates: start: 20180526, end: 20180601
  348. AMOXICILLIN\CLAVULANATE POTASSIUM [Concomitant]
     Active Substance: AMOXICILLIN\CLAVULANATE POTASSIUM
     Dosage: 800 MG, BID (800 MG, QD, 400 MG, BID (0.5 DAY, CUMULATIVE DOSE: 760000.0 MG)
     Route: 048
     Dates: start: 20171030, end: 20171105
  349. AMOXICILLIN\CLAVULANATE POTASSIUM [Concomitant]
     Active Substance: AMOXICILLIN\CLAVULANATE POTASSIUM
     Dosage: 1500 MG, QD (CUMULATIVE DOSE: 1381437.5 MG)
     Route: 048
     Dates: start: 20171001, end: 20171008
  350. AMOXICILLIN\CLAVULANATE POTASSIUM [Concomitant]
     Active Substance: AMOXICILLIN\CLAVULANATE POTASSIUM
     Dosage: 500 MG (CUMULATIVE DOSE TO FIRST REACTION: 460479.16 MG)
     Route: 048
     Dates: start: 20171001, end: 20171008
  351. AMOXICILLIN\CLAVULANATE POTASSIUM [Concomitant]
     Active Substance: AMOXICILLIN\CLAVULANATE POTASSIUM
     Dosage: 400 MG, BID
     Dates: start: 20171030, end: 20171105
  352. MICONAZOLE NITRATE [Concomitant]
     Active Substance: MICONAZOLE NITRATE
     Indication: Rash
     Dosage: 40 MG, QD (CUMULATIVE DOSE: 24600.0 MG)
     Route: 061
     Dates: start: 20161129, end: 20170101
  353. MICONAZOLE NITRATE [Concomitant]
     Active Substance: MICONAZOLE NITRATE
     Dosage: 40 MG, QD (CUMULATIVE DOSE TO FIRST REACTION: 23761.666 MG)
     Route: 061
     Dates: start: 20161129, end: 20170101
  354. MICONAZOLE NITRATE [Concomitant]
     Active Substance: MICONAZOLE NITRATE
     Dosage: 20 MILLIGRAM (0.5 DAY)
     Dates: start: 20161129, end: 20170101
  355. MICONAZOLE NITRATE [Concomitant]
     Active Substance: MICONAZOLE NITRATE
     Dosage: 20 MILLIGRAM (0.5 DAY)
     Route: 061
     Dates: start: 20161129, end: 20170101
  356. MICONAZOLE NITRATE [Concomitant]
     Active Substance: MICONAZOLE NITRATE
     Dosage: UNK
  357. MICONAZOLE NITRATE [Concomitant]
     Active Substance: MICONAZOLE NITRATE
     Dosage: 40 MG, QD (CUMULATIVE DOSE: 2720 MG)
     Route: 061
     Dates: start: 20161129, end: 20170101
  358. MICONAZOLE NITRATE [Concomitant]
     Active Substance: MICONAZOLE NITRATE
     Dosage: 20 MG, BID (CUMULATIVE DOSE: 2720 MG)
     Route: 061
     Dates: start: 20161129, end: 20170101
  359. MICONAZOLE NITRATE [Concomitant]
     Active Substance: MICONAZOLE NITRATE
     Dosage: 40 MG QD (CUMULATIVE DOSE :24600.0 MG)
     Route: 061
     Dates: start: 20161129, end: 20170101
  360. MICONAZOLE NITRATE [Concomitant]
     Active Substance: MICONAZOLE NITRATE
     Dosage: 40 MG, QD (CUMULATIVE DOSE TO FIRST REACTION: 23761.666 MG)
     Route: 061
     Dates: start: 20161129, end: 20170101
  361. DEXAMETHASONE [Concomitant]
     Active Substance: DEXAMETHASONE
     Indication: Illness
     Dosage: 4 MG, QD(UNCOATED, ORAL)
     Route: 048
     Dates: start: 20170531, end: 20170602
  362. DEXAMETHASONE [Concomitant]
     Active Substance: DEXAMETHASONE
     Dosage: 8 MG (UNCOATED, ORAL)
     Route: 048
     Dates: start: 20150524, end: 20150708
  363. DEXAMETHASONE [Concomitant]
     Active Substance: DEXAMETHASONE
     Dosage: 16 MG, QD
     Route: 048
     Dates: start: 20150527, end: 20150708
  364. DEXAMETHASONE [Concomitant]
     Active Substance: DEXAMETHASONE
     Dosage: 2 MG, QD
     Route: 048
     Dates: start: 20170616, end: 20170616
  365. DEXAMETHASONE [Concomitant]
     Active Substance: DEXAMETHASONE
     Dosage: 8 MG, QD
     Route: 048
     Dates: start: 20170616, end: 20220617
  366. DEXAMETHASONE [Concomitant]
     Active Substance: DEXAMETHASONE
     Dosage: 4 MG (UNCOATED, ORAL)
     Route: 048
     Dates: start: 20170618, end: 20170619
  367. DEXAMETHASONE [Concomitant]
     Active Substance: DEXAMETHASONE
     Dosage: 4 MG, QD (UNCOATED, ORAL) (CUMULATIVE DOSE: 3271.8333 MG)
     Route: 048
     Dates: start: 20170620, end: 20170621
  368. DEXAMETHASONE [Concomitant]
     Active Substance: DEXAMETHASONE
     Dosage: 2 MG (UNCOATED, ORAL)
     Route: 048
     Dates: start: 20170620, end: 20170621
  369. DEXAMETHASONE [Concomitant]
     Active Substance: DEXAMETHASONE
     Dosage: 16 MG, QD (CUMULATIVE DOSE TO FIRST REACTION: 12688.0 MG )
     Route: 048
     Dates: start: 20170616, end: 20170617
  370. DEXAMETHASONE [Concomitant]
     Active Substance: DEXAMETHASONE
     Dosage: 2 MG (0. 5 PER DAY)
     Dates: start: 20170620, end: 20170621
  371. DEXAMETHASONE [Concomitant]
     Active Substance: DEXAMETHASONE
     Dosage: 8 MG (0.5 PER DAY)
     Dates: start: 20170616, end: 20170617
  372. DEXAMETHASONE [Concomitant]
     Active Substance: DEXAMETHASONE
     Dosage: 4 MG (0.5 PER DAY)
     Dates: start: 20170616, end: 20170619
  373. DEXAMETHASONE [Concomitant]
     Active Substance: DEXAMETHASONE
     Dosage: 2 MG, DAILY (UNCOATED, ORAL) (CUMULATIVE DOSE TO FIRST REACTION: 1560.0 MG )
     Route: 048
     Dates: start: 20170603, end: 20170604
  374. DEXAMETHASONE [Concomitant]
     Active Substance: DEXAMETHASONE
     Dosage: 8 MG (0.5 PER DAY)
     Dates: start: 20150524, end: 20150708
  375. DEXAMETHASONE [Concomitant]
     Active Substance: DEXAMETHASONE
     Dosage: 16 MG, QD (UNCOATED, ORAL)(CUMULATIVE DOSE TO FIRST REACTION: 624.0 MG)
     Route: 048
     Dates: start: 20150524, end: 20150708
  376. DEXAMETHASONE [Concomitant]
     Active Substance: DEXAMETHASONE
     Dosage: 4 MG QD(UNCOATED, ORAL) (CUMULATIVE DOSE TO FIRST REACTION: 3188.0 MG)
     Route: 048
     Dates: start: 20170620, end: 20170621
  377. DEXAMETHASONE [Concomitant]
     Active Substance: DEXAMETHASONE
     Dosage: 8 MG QD(UNCOATED, ORAL)(CUMULATIVE DOSE TO FIRST REACTION: 6344.0 MG)
     Route: 048
     Dates: start: 20170616, end: 20170619
  378. DEXAMETHASONE [Concomitant]
     Active Substance: DEXAMETHASONE
     Dosage: 4 MG, QD(UNCOATED, ORAL) (CUMULATIVE DOSE TO FIRST REACTION: 3108.0 MG)
     Route: 048
     Dates: start: 20170531, end: 20170602
  379. DEXAMETHASONE [Concomitant]
     Active Substance: DEXAMETHASONE
     Dosage: 4 MG, QD (CUMULATIVE DOSE: 3191.8333 MG)
     Route: 048
     Dates: start: 20170531, end: 20170602
  380. DEXAMETHASONE [Concomitant]
     Active Substance: DEXAMETHASONE
     Dosage: 2 MG, QD  (UNCOATED, ORAL)  (CUMULATIVE DOSE: 1601.9166 MG)
     Route: 048
     Dates: start: 20170603, end: 20170604
  381. DEXAMETHASONE [Concomitant]
     Active Substance: DEXAMETHASONE
     Dosage: 16 MG, QD (UNCOATED, ORAL) (CUMULATIVE DOSE: 13023.333 MG)
     Route: 048
     Dates: start: 20170616, end: 20170617
  382. DEXAMETHASONE [Concomitant]
     Active Substance: DEXAMETHASONE
     Dosage: 16 MG, QD (UNCOATED, ORAL) (CUMULATIVE DOSE: 959.3333 MG)
     Route: 048
     Dates: start: 20150524, end: 20150708
  383. DEXAMETHASONE [Concomitant]
     Active Substance: DEXAMETHASONE
     Dosage: 8 MG, QD (UNCOATED, ORAL) (CUMULATIVE DOSE: 6511.6665 MG)
     Route: 048
     Dates: start: 20170616, end: 20170619
  384. DEXAMETHASONE [Concomitant]
     Active Substance: DEXAMETHASONE
     Dosage: 4 MG (CUMULATIVE DOSE: 736 MG)
     Route: 048
     Dates: start: 20170618, end: 20170619
  385. DEXAMETHASONE [Concomitant]
     Active Substance: DEXAMETHASONE
     Dosage: 8 MG, BID (0.5 DAY) (CUMULATIVE DOSE: 736 MG)
     Route: 048
     Dates: start: 20150527, end: 20150707
  386. DEXAMETHASONE [Concomitant]
     Active Substance: DEXAMETHASONE
     Dosage: UNK (SUBSEQUENT DOSE RECEIVED ON 18/JUN/2017)
     Dates: start: 20170531, end: 20170602
  387. DEXAMETHASONE [Concomitant]
     Active Substance: DEXAMETHASONE
     Dosage: 2 MG, QD (SUBSEQUENT DOSE RECEIVED ON 20/JUN/2017.) (CUMULATIVE DOSE: 736 MG)
     Dates: start: 20170616, end: 20170616
  388. DEXAMETHASONE [Concomitant]
     Active Substance: DEXAMETHASONE
     Dosage: 2 MG, QD (CUMULATIVE DOSE: 736 MG)
     Route: 048
     Dates: start: 20170603, end: 20170604
  389. DEXAMETHASONE [Concomitant]
     Active Substance: DEXAMETHASONE
     Dosage: 8 MG QD (CUMULATIVE DOSE: 736 MG)
     Route: 048
     Dates: start: 20170616, end: 20170617
  390. DEXAMETHASONE [Concomitant]
     Active Substance: DEXAMETHASONE
     Dosage: 2 MG, BID (0.5 DAY) (CUMULATIVE DOSE: 736 MG)
     Route: 048
     Dates: start: 20170620, end: 20170621
  391. DEXAMETHASONE [Concomitant]
     Active Substance: DEXAMETHASONE
     Dosage: 8 MG, QD (CUMULATIVE DOSE: 736 MG)
     Route: 048
  392. DEXAMETHASONE [Concomitant]
     Active Substance: DEXAMETHASONE
     Dosage: 4 MG (CUMULATIVE DOSE: 736 MG)
     Dates: start: 20170616, end: 20170619
  393. DEXAMETHASONE [Concomitant]
     Active Substance: DEXAMETHASONE
     Dosage: 2 MG (CUMULATIVE DOSE: 736 MG)
     Route: 048
     Dates: start: 20170620, end: 20170621
  394. DEXAMETHASONE [Concomitant]
     Active Substance: DEXAMETHASONE
     Dosage: 4 MG, BID (0.5 DAY) (CUMULATIVE DOSE: 736 MG)
     Route: 048
     Dates: start: 20170616, end: 20170617
  395. DEXAMETHASONE [Concomitant]
     Active Substance: DEXAMETHASONE
     Dosage: 8 MG (CUMULATIVE DOSE: 736 MG)
     Route: 048
     Dates: start: 20150524, end: 20150708
  396. DEXAMETHASONE [Concomitant]
     Active Substance: DEXAMETHASONE
     Dosage: 4 MG, QD (CUMULATIVE DOSE: 736 MG)
     Route: 048
     Dates: start: 20170531, end: 20170602
  397. DEXAMETHASONE [Concomitant]
     Active Substance: DEXAMETHASONE
     Dosage: 8 MG (0.5 PER DAY)
     Dates: start: 20170616, end: 20170617
  398. DEXAMETHASONE [Concomitant]
     Active Substance: DEXAMETHASONE
     Dosage: 4 MG QD(UNCOATED, ORAL) (CUMULATIVE DOSE TO FIRST REACTION: 3188.0 MG)
     Route: 048
     Dates: start: 20170620, end: 20170621
  399. DEXAMETHASONE [Concomitant]
     Active Substance: DEXAMETHASONE
     Dosage: 2 MG, QD
     Route: 048
     Dates: start: 20170620, end: 20170621
  400. DEXAMETHASONE [Concomitant]
     Active Substance: DEXAMETHASONE
     Dosage: 8 MG (0.5 PER DAY)
     Route: 048
     Dates: start: 20170616, end: 20170617
  401. DEXAMETHASONE [Concomitant]
     Active Substance: DEXAMETHASONE
     Dosage: 8 MG
     Route: 048
     Dates: start: 20150527, end: 20150708
  402. DEXAMETHASONE [Concomitant]
     Active Substance: DEXAMETHASONE
     Dosage: 8 MG, BID (0.5 DAY)
     Route: 048
     Dates: start: 20170616, end: 20170617
  403. DEXAMETHASONE [Concomitant]
     Active Substance: DEXAMETHASONE
     Dosage: 16 MG, QD
     Route: 048
     Dates: start: 20150527, end: 20150708
  404. DEXAMETHASONE [Concomitant]
     Active Substance: DEXAMETHASONE
     Dosage: 16 MG, QD CUMULATIVE DOSE TO FIRST REACTION: 688 MG
     Route: 048
     Dates: start: 20150527, end: 20150708
  405. DEXAMETHASONE [Concomitant]
     Active Substance: DEXAMETHASONE
     Dosage: 8 MG, QD CUMULATIVE DOSE TO FIRST REACTION: 688 MG
     Route: 048
     Dates: start: 20150527, end: 20150708
  406. DEXAMETHASONE [Concomitant]
     Active Substance: DEXAMETHASONE
     Dosage: 2 MG
     Dates: start: 20170603, end: 20170604
  407. DEXAMETHASONE [Concomitant]
     Active Substance: DEXAMETHASONE
     Dosage: 2 MG (0.5 DAY)
     Dates: start: 20170620, end: 20170621
  408. DEXAMETHASONE [Concomitant]
     Active Substance: DEXAMETHASONE
     Dosage: 8 MG, QD (CUMULATIVE DOSE: 736 MG)
     Route: 048
  409. DEXAMETHASONE [Concomitant]
     Active Substance: DEXAMETHASONE
     Dosage: 4 MG (0.5 DAY)
     Dates: start: 20170616, end: 20170619
  410. DEXAMETHASONE [Concomitant]
     Active Substance: DEXAMETHASONE
     Dosage: 8 MG (0.5 DAY)
     Dates: start: 20150527, end: 20150708
  411. DEXAMETHASONE [Concomitant]
     Active Substance: DEXAMETHASONE
     Indication: Illness
     Dosage: 4 MG, (1 DAY)
     Dates: start: 20170531, end: 20170602
  412. DEXAMETHASONE [Concomitant]
     Active Substance: DEXAMETHASONE
     Dosage: 8 MG, QD
     Route: 048
     Dates: start: 20170616, end: 20220617
  413. DEXAMETHASONE [Concomitant]
     Active Substance: DEXAMETHASONE
     Dosage: 4 MG, QD
     Route: 048
     Dates: start: 20170531, end: 20170602
  414. DEXAMETHASONE [Concomitant]
     Active Substance: DEXAMETHASONE
     Dosage: 4 MG, BID (0.5 DAY)
     Route: 048
     Dates: start: 20170616, end: 20170617
  415. DEXAMETHASONE [Concomitant]
     Active Substance: DEXAMETHASONE
     Dosage: 4 MG
     Dates: start: 20170616, end: 20170619
  416. DEXAMETHASONE [Concomitant]
     Active Substance: DEXAMETHASONE
     Dosage: 8 MG, QD
     Route: 048
  417. DEXAMETHASONE [Concomitant]
     Active Substance: DEXAMETHASONE
     Dosage: 2 MG, QD
     Route: 048
     Dates: start: 20170620, end: 20170621
  418. DEXAMETHASONE [Concomitant]
     Active Substance: DEXAMETHASONE
     Dosage: 4 MG, QD (CUMULATIVE DOSE TO FIRST REACTION: 3271.8333 MG)
     Route: 048
     Dates: start: 20170620, end: 20170621
  419. DEXAMETHASONE [Concomitant]
     Active Substance: DEXAMETHASONE
     Dosage: 16 MG, QD
     Route: 048
     Dates: start: 20170616, end: 20170617
  420. DEXAMETHASONE [Concomitant]
     Active Substance: DEXAMETHASONE
     Dosage: 4 MG, QD (CUMULATIVE DOSE TO FIRST REACTION: 3191.8333 MG)
     Route: 048
     Dates: start: 20170531, end: 20170602
  421. DEXAMETHASONE [Concomitant]
     Active Substance: DEXAMETHASONE
     Dosage: 16 MG, QD (CUMULATIVE DOSE TO FIRST REACTION: 1007.3333 MG)
     Route: 048
     Dates: start: 20150527, end: 20150708
  422. DEXAMETHASONE [Concomitant]
     Active Substance: DEXAMETHASONE
     Dosage: 8 MG, QD (CUMULATIVE DOSE TO FIRST REACTION: 6511.6665 MG)
     Route: 048
     Dates: start: 20170616, end: 20170619
  423. DEXAMETHASONE [Concomitant]
     Active Substance: DEXAMETHASONE
     Dosage: 2 MG, QD
     Route: 048
     Dates: start: 20170603, end: 20170604
  424. DEXAMETHASONE [Concomitant]
     Active Substance: DEXAMETHASONE
     Dosage: 2 MG, QD (CUMULATIVE DOSE TO FIRST REACTION: 16114 MG)
     Route: 048
     Dates: start: 20170620, end: 20170621
  425. BENZYDAMINE HYDROCHLORIDE [Concomitant]
     Active Substance: BENZYDAMINE HYDROCHLORIDE
     Indication: Product used for unknown indication
     Dosage: 10 ML MOUTHWASH, FREQUENCY- PRN(AS NEEDDED)
     Dates: start: 20150307, end: 20150311
  426. BENZYDAMINE HYDROCHLORIDE [Concomitant]
     Active Substance: BENZYDAMINE HYDROCHLORIDE
     Dosage: 10 ML, PRN MOUTHWASH,
     Dates: start: 20150307, end: 20150311
  427. BENZYDAMINE HYDROCHLORIDE [Concomitant]
     Active Substance: BENZYDAMINE HYDROCHLORIDE
     Dosage: 10 ML, PRN (MOUTHWASH)
     Dates: start: 20150307, end: 20150311
  428. DOXYCYCLINE [Concomitant]
     Active Substance: DOXYCYCLINE
     Indication: Dermatitis acneiform
     Dosage: 200MGS DAY ONE, 100MGS OD FOR 6 DAYS (UNCOATED, ORAL)
     Route: 048
     Dates: start: 20150427, end: 20150608
  429. DOXYCYCLINE [Concomitant]
     Active Substance: DOXYCYCLINE
     Dosage: 100 MG, QD (CUMULATIVE DOSE: 3295.8333 MG)
     Route: 048
     Dates: start: 20150427, end: 20150608
  430. DOXYCYCLINE [Concomitant]
     Active Substance: DOXYCYCLINE
     Dosage: 100 MG (CUMULATIVE DOSE: 3295.8333 MG)
     Route: 048
     Dates: start: 20150427, end: 20150608
  431. DOXYCYCLINE [Concomitant]
     Active Substance: DOXYCYCLINE
     Dosage: 100 MG (CUMULATIVE DOSE: 3295.8333 MG)
     Route: 048
     Dates: start: 20150427, end: 20150608
  432. DOXYCYCLINE [Concomitant]
     Active Substance: DOXYCYCLINE
     Dosage: 100 MG (CUMULATIVE DOSE: 3295.8333 MG)
     Route: 048
     Dates: start: 20150427, end: 20150608
  433. DOXYCYCLINE [Concomitant]
     Active Substance: DOXYCYCLINE
     Dosage: 100 MG, QD (UNCOATED, ORAL) CUMULATIVE DOSE TO FIRST REACTION: 91100.0 MG
     Route: 048
     Dates: start: 20171012, end: 20171029
  434. DOXYCYCLINE [Concomitant]
     Active Substance: DOXYCYCLINE
     Dosage: 100 MG, QD CUMULATIVE DOSE TO FIRST REACTION: 91100.0 MG
     Dates: start: 20171012, end: 20171029
  435. DOXYCYCLINE [Concomitant]
     Active Substance: DOXYCYCLINE
     Dosage: 100 MG, QD CUMULATIVE DOSE TO FIRST REACTION: 91100.0 MG
     Dates: start: 20171012, end: 20171029
  436. DOXYCYCLINE [Concomitant]
     Active Substance: DOXYCYCLINE
     Dosage: 100 MG, QD CUMULATIVE DOSE TO FIRST REACTION: 93195.836 MG
     Dates: start: 20171012, end: 20171029
  437. DOXYCYCLINE [Concomitant]
     Active Substance: DOXYCYCLINE
     Dosage: 100 MG, QD CUMULATIVE DOSE TO FIRST REACTION: 91100.0 MG
     Dates: start: 20171012, end: 20171029
  438. DOXYCYCLINE [Concomitant]
     Active Substance: DOXYCYCLINE
     Dosage: 100 MG, QD (UNCOATED, ORAL) (CUMULATIVE DOSE: 95700.0 MG)
     Dates: start: 20171106, end: 20191019
  439. DOXYCYCLINE [Concomitant]
     Active Substance: DOXYCYCLINE
     Dosage: 100 MG, QD (CUMULATIVE DOSE: 95700.0 MG)
     Dates: start: 20171106, end: 20191019
  440. DOXYCYCLINE [Concomitant]
     Active Substance: DOXYCYCLINE
     Dosage: 100 MG, QD (CUMULATIVE DOSE: 95700.0 MG)
     Dates: start: 20171106, end: 20191019
  441. DOXYCYCLINE [Concomitant]
     Active Substance: DOXYCYCLINE
     Dosage: 100 MG, QD (CUMULATIVE DOSE: 95700.0 MG)
     Dates: start: 20171106, end: 20191019
  442. DOXYCYCLINE [Concomitant]
     Active Substance: DOXYCYCLINE
     Dosage: 100 MG, QD (CUMULATIVE DOSE: 95700.0 MG)
     Dates: start: 20171106, end: 20191019
  443. DOXYCYCLINE [Concomitant]
     Active Substance: DOXYCYCLINE
     Dosage: 100 MG, QD (CUMULATIVE DOSE: 95700.0 MG)
     Dates: start: 20171106, end: 20191019
  444. DOXYCYCLINE [Concomitant]
     Active Substance: DOXYCYCLINE
     Dosage: 100 MG, QD (CUMULATIVE DOSE: 95700.0 MG)
     Dates: start: 20171106, end: 20191019
  445. DOXYCYCLINE [Concomitant]
     Active Substance: DOXYCYCLINE
     Dosage: 100 MG, QD (CUMULATIVE DOSE: 95700.0 MG)
     Dates: start: 20171106, end: 20191019
  446. DOXYCYCLINE [Concomitant]
     Active Substance: DOXYCYCLINE
     Dosage: 100 MG, QD (CUMULATIVE DOSE: 95700.0 MG)
     Dates: start: 20171106, end: 20191019
  447. DOXYCYCLINE [Concomitant]
     Active Substance: DOXYCYCLINE
     Dosage: 100 MG, QD (CUMULATIVE DOSE: 95700.0 MG)
     Dates: start: 20171106, end: 20191019
  448. DOXYCYCLINE [Concomitant]
     Active Substance: DOXYCYCLINE
     Dosage: 300 MG, QD (UNCOATED, ORAL)
     Route: 048
     Dates: start: 20190607
  449. DOXYCYCLINE [Concomitant]
     Active Substance: DOXYCYCLINE
     Dosage: 100 MG, QD (UNCOATED, ORAL)CUMULATIVE DOSE TO FIRST REACTION: 151400.0 MG
     Route: 048
     Dates: start: 20190607
  450. DOXYCYCLINE [Concomitant]
     Active Substance: DOXYCYCLINE
     Dosage: 100 MG, QD CUMULATIVE DOSE TO FIRST REACTION: 151400.0 MG
     Route: 048
     Dates: start: 20190607
  451. DOXYCYCLINE [Concomitant]
     Active Substance: DOXYCYCLINE
     Dosage: 100 MG, QD CUMULATIVE DOSE TO FIRST REACTION: 151400.0 MG
     Route: 048
     Dates: start: 20190607
  452. DOXYCYCLINE [Concomitant]
     Active Substance: DOXYCYCLINE
     Dosage: 100 MG, QD CUMULATIVE DOSE TO FIRST REACTION: 151400.0 MG
     Route: 048
     Dates: start: 20190607
  453. DOXYCYCLINE [Concomitant]
     Active Substance: DOXYCYCLINE
     Dosage: 100 MG, QD CUMULATIVE DOSE TO FIRST REACTION: 151400.0 MG
     Route: 048
     Dates: start: 20190607
  454. DOXYCYCLINE [Concomitant]
     Active Substance: DOXYCYCLINE
     Dosage: 100 MG, QD CUMULATIVE DOSE TO FIRST REACTION: 151400.0 MG
     Route: 048
     Dates: start: 20190607
  455. DOXYCYCLINE [Concomitant]
     Active Substance: DOXYCYCLINE
     Dosage: 100 MG, QD CUMULATIVE DOSE TO FIRST REACTION: 151400.0 MG
     Route: 048
     Dates: start: 20190607
  456. DOXYCYCLINE [Concomitant]
     Active Substance: DOXYCYCLINE
     Dosage: 100 MG, QD CUMULATIVE DOSE TO FIRST REACTION: 151400.0 MG
     Route: 048
     Dates: start: 20190607
  457. DOXYCYCLINE [Concomitant]
     Active Substance: DOXYCYCLINE
     Dosage: 100 MG, QD CUMULATIVE DOSE TO FIRST REACTION: 151400.0 MG
     Route: 048
     Dates: start: 20190607
  458. DOXYCYCLINE [Concomitant]
     Active Substance: DOXYCYCLINE
     Dosage: 100 MG, QD CUMULATIVE DOSE TO FIRST REACTION: 153495.83 MG
     Route: 048
     Dates: start: 20190607
  459. DOXYCYCLINE [Concomitant]
     Active Substance: DOXYCYCLINE
     Dosage: 100 MG, QD (CUMULATIVE DOSE: 153495.83 MG)
     Route: 048
     Dates: start: 20190607
  460. DOXYCYCLINE [Concomitant]
     Active Substance: DOXYCYCLINE
     Dosage: 100 MG, QD CUMULATIVE DOSE TO FIRST REACTION: 93195.836 MG
     Dates: start: 20171012, end: 20171029
  461. DOXYCYCLINE [Concomitant]
     Active Substance: DOXYCYCLINE
     Dosage: 100 MG, QD CUMULATIVE DOSE TO FIRST REACTION: 93195.836 MG
     Dates: start: 20171012, end: 20171029
  462. DOXYCYCLINE [Concomitant]
     Active Substance: DOXYCYCLINE
     Dosage: 100 MG, QD CUMULATIVE DOSE TO FIRST REACTION: 93195.836 MG
     Dates: start: 20171012, end: 20171029
  463. DOXYCYCLINE [Concomitant]
     Active Substance: DOXYCYCLINE
     Dosage: 100 MG, QD CUMULATIVE DOSE TO FIRST REACTION: 93195.836 MG
     Dates: start: 20171012, end: 20171029
  464. DOXYCYCLINE [Concomitant]
     Active Substance: DOXYCYCLINE
     Dosage: 100 MG, QD (CUMULATIVE DOSE: 153495.83 MG)
     Route: 048
     Dates: start: 20190607
  465. DOXYCYCLINE [Concomitant]
     Active Substance: DOXYCYCLINE
     Dosage: 100 MG, QD (CUMULATIVE DOSE: 153495.83 MG)
     Route: 048
     Dates: start: 20190607
  466. DOXYCYCLINE [Concomitant]
     Active Substance: DOXYCYCLINE
     Dosage: 100 MG, QD (CUMULATIVE DOSE: 153495.83 MG)
     Route: 048
     Dates: start: 20190607
  467. DOXYCYCLINE [Concomitant]
     Active Substance: DOXYCYCLINE
     Dosage: 100 MG, QD (CUMULATIVE DOSE: 153495.83 MG)
     Route: 048
     Dates: start: 20190607
  468. DOXYCYCLINE [Concomitant]
     Active Substance: DOXYCYCLINE
     Dosage: 100 MG, QD (CUMULATIVE DOSE: 153495.83 MG)
     Route: 048
     Dates: start: 20190607
  469. DOXYCYCLINE [Concomitant]
     Active Substance: DOXYCYCLINE
     Dosage: 100 MG, QD (CUMULATIVE DOSE: 153495.83 MG)
     Route: 048
     Dates: start: 20190607
  470. DOXYCYCLINE [Concomitant]
     Active Substance: DOXYCYCLINE
     Dosage: 100 MG, QD (CUMULATIVE DOSE: 153495.83 MG)
     Route: 048
     Dates: start: 20190607
  471. DOXYCYCLINE [Concomitant]
     Active Substance: DOXYCYCLINE
     Dosage: 100 MG, QD (CUMULATIVE DOSE: 153495.83 MG)
     Route: 048
     Dates: start: 20190607
  472. DOXYCYCLINE [Concomitant]
     Active Substance: DOXYCYCLINE
     Dosage: 100 MG
     Route: 048
     Dates: start: 20190607
  473. DOXYCYCLINE [Concomitant]
     Active Substance: DOXYCYCLINE
     Dosage: 200 MG DAY 1, 100 MG DAILY FOR 6 DAYS
     Route: 048
     Dates: start: 20150506, end: 20150608
  474. DOXYCYCLINE [Concomitant]
     Active Substance: DOXYCYCLINE
     Dosage: 100 MG
     Route: 048
     Dates: start: 20171012, end: 20171029
  475. DOXYCYCLINE [Concomitant]
     Active Substance: DOXYCYCLINE
     Dosage: 100 MG, QD (200 MG DAY 1, 100 MG DAILY FOR 6 DAYS)
     Route: 048
  476. DOXYCYCLINE [Concomitant]
     Active Substance: DOXYCYCLINE
     Dosage: 100 MILLIGRAM, QD
     Dates: start: 20150427, end: 20150608
  477. DOXYCYCLINE [Concomitant]
     Active Substance: DOXYCYCLINE
     Dosage: 100 MILLIGRAM, QD
     Dates: start: 20170611, end: 20191019
  478. BETAMETHASONE VALERATE\FUSIDIC ACID [Concomitant]
     Active Substance: BETAMETHASONE VALERATE\FUSIDIC ACID
     Indication: Dry skin
     Dosage: 0.1 %, AS NECESSARY
     Route: 061
     Dates: start: 20151123
  479. BETAMETHASONE VALERATE\FUSIDIC ACID [Concomitant]
     Active Substance: BETAMETHASONE VALERATE\FUSIDIC ACID
     Dosage: 0.1 %, AS NECESSARY
     Route: 061
     Dates: start: 20151123
  480. BETAMETHASONE VALERATE\FUSIDIC ACID [Concomitant]
     Active Substance: BETAMETHASONE VALERATE\FUSIDIC ACID
     Dosage: UNK
     Route: 061
     Dates: start: 20151127
  481. BETAMETHASONE VALERATE\FUSIDIC ACID [Concomitant]
     Active Substance: BETAMETHASONE VALERATE\FUSIDIC ACID
     Dosage: UNK
     Route: 061
     Dates: start: 20151123
  482. BETAMETHASONE VALERATE\FUSIDIC ACID [Concomitant]
     Active Substance: BETAMETHASONE VALERATE\FUSIDIC ACID
     Dosage: 0.1 %, PRN
     Route: 061
     Dates: start: 20151123
  483. FYBOGEL [Concomitant]
     Active Substance: HERBALS\PLANTAGO OVATA SEED
     Indication: Constipation
     Dosage: 7 G, QD (3.50 G (GRAM) LIQUID PO (ORAL) BID (TWICE A DAY))
     Route: 048
     Dates: start: 20150312, end: 20150314
  484. FYBOGEL [Concomitant]
     Active Substance: HERBALS\PLANTAGO OVATA SEED
     Dosage: 7 G
     Route: 048
     Dates: start: 20150314
  485. FYBOGEL [Concomitant]
     Active Substance: HERBALS\PLANTAGO OVATA SEED
     Dosage: 3.5 G
     Route: 048
     Dates: start: 20150314
  486. FYBOGEL [Concomitant]
     Active Substance: HERBALS\PLANTAGO OVATA SEED
     Dosage: 3.5 G (0.5 DAY)
     Route: 048
     Dates: start: 20150312, end: 20150314
  487. FYBOGEL [Concomitant]
     Active Substance: HERBALS\PLANTAGO OVATA SEED
     Dosage: UNK
  488. FYBOGEL [Concomitant]
     Active Substance: HERBALS\PLANTAGO OVATA SEED
     Dosage: 3.5 G
     Dates: start: 20150312
  489. FYBOGEL [Concomitant]
     Active Substance: HERBALS\PLANTAGO OVATA SEED
     Dosage: 7 G, QD CUMULATIVE DOSE TO FIRST REACTION: 21 G
     Route: 048
     Dates: start: 20150312, end: 20150314
  490. FYBOGEL [Concomitant]
     Active Substance: HERBALS\PLANTAGO OVATA SEED
     Dosage: 3.5 G, QD CUMULATIVE DOSE TO FIRST REACTION: 21 G
     Route: 048
     Dates: start: 20150312, end: 20150314
  491. FYBOGEL [Concomitant]
     Active Substance: HERBALS\PLANTAGO OVATA SEED
     Dosage: 3.50G (GRAM) LIQUID PO (ORAL) BID (TWICE A DAY)
     Dates: start: 20150312, end: 20150314
  492. FYBOGEL [Concomitant]
     Active Substance: HERBALS\PLANTAGO OVATA SEED
     Dosage: 3.5 G
     Route: 048
     Dates: start: 20150314
  493. FYBOGEL [Concomitant]
     Active Substance: HERBALS\PLANTAGO OVATA SEED
     Dosage: UNK
     Route: 048
     Dates: start: 20150306, end: 20150306
  494. FYBOGEL [Concomitant]
     Active Substance: HERBALS\PLANTAGO OVATA SEED
     Dosage: UNK
  495. LANSOPRAZOLE [Concomitant]
     Active Substance: LANSOPRAZOLE
     Indication: Product used for unknown indication
     Dosage: UNK (UNCOATED, ORAL)
     Route: 048
     Dates: start: 20150306, end: 20150306
  496. LANSOPRAZOLE [Concomitant]
     Active Substance: LANSOPRAZOLE
     Dosage: 30 MG, QD (UNCOATED, ORAL) (CUMULATIVE DOSE: 7290.0MG)
     Route: 048
     Dates: start: 20161123
  497. LANSOPRAZOLE [Concomitant]
     Active Substance: LANSOPRAZOLE
     Dosage: 30 MG, QD
     Dates: start: 20151123
  498. LANSOPRAZOLE [Concomitant]
     Active Substance: LANSOPRAZOLE
     Dosage: 30 MG, QD (CUMULATIVE DOSE TO FIRST REACTION: 6661.25 MG)
     Route: 048
     Dates: start: 20151123
  499. LANSOPRAZOLE [Concomitant]
     Active Substance: LANSOPRAZOLE
     Dosage: UNK (UNCOATED, ORAL)
     Route: 048
     Dates: start: 20150306
  500. LANSOPRAZOLE [Concomitant]
     Active Substance: LANSOPRAZOLE
     Dosage: UNK
     Route: 048
     Dates: start: 20150306
  501. LANSOPRAZOLE [Concomitant]
     Active Substance: LANSOPRAZOLE
     Dosage: UNK
     Route: 048
     Dates: start: 20150306, end: 20150306
  502. LANSOPRAZOLE [Concomitant]
     Active Substance: LANSOPRAZOLE
     Dosage: 30 MG, QD (CUMULATIVE DOSE: 7290.0 MG)
     Route: 048
     Dates: start: 20151123
  503. LANSOPRAZOLE [Concomitant]
     Active Substance: LANSOPRAZOLE
     Dosage: 30 MG, QD (CUMULATIVE DOSE: 7290.0MG)
     Route: 048
     Dates: start: 20161123
  504. LANSOPRAZOLE [Concomitant]
     Active Substance: LANSOPRAZOLE
     Dosage: UNK
     Route: 048
     Dates: start: 20150306, end: 20150306
  505. LANSOPRAZOLE [Concomitant]
     Active Substance: LANSOPRAZOLE
     Dosage: 30 MG, QD, CUMULATIVE DOSE TO FIRST REACTION: 3511.25 MG
     Route: 048
     Dates: start: 20151123
  506. LANSOPRAZOLE [Concomitant]
     Active Substance: LANSOPRAZOLE
     Dosage: 4 MG, (UNCOATED, ORAL)
     Route: 048
     Dates: start: 20150306, end: 20150308
  507. LANSOPRAZOLE [Concomitant]
     Active Substance: LANSOPRAZOLE
     Dosage: 30 MG, QD (CUMULATIVE DOSE TO FIRST REACTION: 18270.0 MG)
     Route: 048
     Dates: start: 20161123
  508. LANSOPRAZOLE [Concomitant]
     Active Substance: LANSOPRAZOLE
     Indication: Product used for unknown indication
     Dosage: UNK
     Route: 048
     Dates: start: 20150306, end: 20150306
  509. LANSOPRAZOLE [Concomitant]
     Active Substance: LANSOPRAZOLE
     Dosage: 30 MG, QD
     Route: 048
     Dates: start: 20151123
  510. LANSOPRAZOLE [Concomitant]
     Active Substance: LANSOPRAZOLE
     Dosage: 30 MG, QD
     Route: 048
     Dates: start: 20161123
  511. LOPERAMIDE [Concomitant]
     Active Substance: LOPERAMIDE
     Indication: Product used for unknown indication
     Dosage: 4 MG (UNCOATED, ORAL)
     Route: 048
     Dates: start: 20150306, end: 20150308
  512. LOPERAMIDE [Concomitant]
     Active Substance: LOPERAMIDE
     Dosage: 4 MG
     Route: 048
     Dates: start: 20150306, end: 20150308
  513. METOCLOPRAMIDE [Concomitant]
     Active Substance: METOCLOPRAMIDE
     Indication: Illness
     Dosage: 30 MG, 1/WEEK SUBSEQUENT DOSE RECEIVED ON 10/MAY/2017 (UNCOATED, ORAL)(CUMULATIVE DOSE: 1888.75 MG)
     Route: 048
     Dates: start: 20150527, end: 20150708
  514. METOCLOPRAMIDE [Concomitant]
     Active Substance: METOCLOPRAMIDE
     Dosage: 30 MG, QD (UNCOATED, ORAL)(CUMULATIVE DOSE TO FIRST REACTION: 22680.0 MG)(CUMULATIVE DOSE TO FIRST R
     Route: 048
     Dates: start: 20170510, end: 2017
  515. METOCLOPRAMIDE [Concomitant]
     Active Substance: METOCLOPRAMIDE
     Dosage: 10 MG (SUBSEQUENT DOSE RECEIVED ON 10/MAY/2017) (UNCOATED, ORAL)
     Route: 048
     Dates: start: 20150527, end: 20150708
  516. METOCLOPRAMIDE [Concomitant]
     Active Substance: METOCLOPRAMIDE
     Dosage: 10 MG (UNCOATED, ORAL)
     Route: 048
     Dates: start: 20170510, end: 2017
  517. METOCLOPRAMIDE [Concomitant]
     Active Substance: METOCLOPRAMIDE
     Dosage: 400 MG (UNCOATED, ORAL)
     Route: 048
     Dates: start: 20171001, end: 20171008
  518. METOCLOPRAMIDE [Concomitant]
     Active Substance: METOCLOPRAMIDE
     Dosage: 10 MG (0.33 DAY)
     Dates: start: 20170510, end: 2017
  519. METOCLOPRAMIDE [Concomitant]
     Active Substance: METOCLOPRAMIDE
     Dosage: 10 MG (0.33 DAY)
     Dates: start: 20150527, end: 20150708
  520. METOCLOPRAMIDE [Concomitant]
     Active Substance: METOCLOPRAMIDE
     Dosage: 30 MG QD(UNCOATED, ORAL)(CUMULATIVE DOSE TO FIRST REACTION: 1260.0 MG )
     Route: 048
     Dates: start: 20150527, end: 20150708
  521. METOCLOPRAMIDE [Concomitant]
     Active Substance: METOCLOPRAMIDE
     Dosage: 400 MG
     Dates: start: 20171001
  522. METOCLOPRAMIDE [Concomitant]
     Active Substance: METOCLOPRAMIDE
     Dosage: 10 MG (SUBSEQUENT DOSE RECEIVED ON 10/MAY/2017) (CUMULATIVE DOSE: 1290 MG)
     Dates: start: 20150527, end: 20150708
  523. METOCLOPRAMIDE [Concomitant]
     Active Substance: METOCLOPRAMIDE
     Dosage: 10 MG, TID (0.33 DAY)
     Route: 048
     Dates: start: 20170510, end: 2017
  524. METOCLOPRAMIDE [Concomitant]
     Active Substance: METOCLOPRAMIDE
     Dosage: 400 MG (CUMULATIVE DOSE: 1290 MG)
     Route: 048
     Dates: start: 20171001, end: 20171008
  525. METOCLOPRAMIDE [Concomitant]
     Active Substance: METOCLOPRAMIDE
     Dosage: 10 MG, TID (0.33 DAY) (CUMULATIVE DOSE: 1290 MG)
     Route: 048
     Dates: start: 20150527, end: 20150708
  526. METOCLOPRAMIDE [Concomitant]
     Active Substance: METOCLOPRAMIDE
     Dosage: 10 MG (CUMULATIVE DOSE: 1290 MG)
     Route: 048
     Dates: start: 20170510, end: 2017
  527. METOCLOPRAMIDE [Concomitant]
     Active Substance: METOCLOPRAMIDE
     Dosage: 2 OTHER (CUMULATIVE DOSE: 1290 MG)
     Dates: start: 20170510
  528. METOCLOPRAMIDE [Concomitant]
     Active Substance: METOCLOPRAMIDE
     Dosage: 30 MG, QD (UNCOATED, ORAL)(CUMULATIVE DOSE TO FIRST REACTION: 22680.0 MG)(CUMULATIVE DOSE TO FIRST R
     Route: 048
     Dates: start: 20170510, end: 2017
  529. METOCLOPRAMIDE [Concomitant]
     Active Substance: METOCLOPRAMIDE
     Dosage: 10 MG (SUBSEQUENT DOSE RECEIVED ON 10/MAY/2017)
     Route: 048
     Dates: start: 20150527, end: 20150708
  530. METOCLOPRAMIDE [Concomitant]
     Active Substance: METOCLOPRAMIDE
     Dosage: 10 MG (SUBSEQUENT DOSE RECEIVED ON 10/MAY/2017) (UNCOATED, ORAL)
     Route: 048
     Dates: start: 20150527, end: 20150708
  531. METOCLOPRAMIDE [Concomitant]
     Active Substance: METOCLOPRAMIDE
     Dosage: 1200 MG, QD
     Route: 048
     Dates: start: 20171001, end: 20171008
  532. METOCLOPRAMIDE [Concomitant]
     Active Substance: METOCLOPRAMIDE
     Dosage: UNK (2 OTHER (CUMULATIVE DOSE: 1290 MG))
     Dates: start: 20170510
  533. METOCLOPRAMIDE [Concomitant]
     Active Substance: METOCLOPRAMIDE
     Dosage: 10 MG
     Route: 048
     Dates: start: 20170510, end: 2017
  534. METOCLOPRAMIDE [Concomitant]
     Active Substance: METOCLOPRAMIDE
     Dosage: 10 MILLIGRAM CUMULATIVE DOSE TO FIRST REACTION: 210 MG
     Route: 048
     Dates: start: 20150527, end: 20150708
  535. METOCLOPRAMIDE [Concomitant]
     Active Substance: METOCLOPRAMIDE
     Dosage: 30 MILLIGRAM, QW CUMULATIVE DOSE TO FIRST REACTION: 210 MG
     Route: 048
     Dates: start: 20150527, end: 20150708
  536. METOCLOPRAMIDE [Concomitant]
     Active Substance: METOCLOPRAMIDE
     Dosage: 30 MG, QW 30MG QD (UNCOATED, ORAL)(CUMULATIVE DOSE TO FIRST REACTION: 1260.0 MG)
     Route: 048
     Dates: start: 20150527, end: 20150708
  537. METOCLOPRAMIDE [Concomitant]
     Active Substance: METOCLOPRAMIDE
     Dosage: 10 MG (CUMULATIVE DOSE: 1290 MG)
     Route: 048
     Dates: start: 20170510, end: 2017
  538. METOCLOPRAMIDE [Concomitant]
     Active Substance: METOCLOPRAMIDE
     Dosage: 30 MG, QD (CUMULATIVE DOSE TO FIRST REACTION: 1888.75 MG)
     Dates: start: 20150527, end: 20150708
  539. METOCLOPRAMIDE [Concomitant]
     Active Substance: METOCLOPRAMIDE
     Dosage: 30 MG, QD (CUMULATIVE DOSE TO FIRST REACTION: 23308.75 MG)
     Route: 048
     Dates: start: 20170510, end: 2017
  540. METRONIDAZOLE [Concomitant]
     Active Substance: METRONIDAZOLE
     Indication: Product used for unknown indication
     Dosage: 1200 MG, QD
     Route: 048
     Dates: start: 20171001, end: 20171008
  541. METRONIDAZOLE [Concomitant]
     Active Substance: METRONIDAZOLE
     Dosage: 1500 MG, QD
     Route: 048
     Dates: start: 20171030, end: 20171105
  542. METRONIDAZOLE [Concomitant]
     Active Substance: METRONIDAZOLE
     Dosage: 400 MG (CUMULATIVE DOSE TO FIRST REACTION: 368383.34 MG)
     Dates: start: 20171001, end: 20171008
  543. METRONIDAZOLE [Concomitant]
     Active Substance: METRONIDAZOLE
     Dosage: 500 MG (0.33 DAY)
     Route: 048
     Dates: start: 20171030, end: 20171105
  544. METRONIDAZOLE [Concomitant]
     Active Substance: METRONIDAZOLE
     Dosage: 500 MG
     Route: 048
     Dates: start: 20171030, end: 20171105
  545. METRONIDAZOLE [Concomitant]
     Active Substance: METRONIDAZOLE
     Dosage: 1500 MG
     Route: 048
     Dates: start: 20171030, end: 20171105
  546. METRONIDAZOLE [Concomitant]
     Active Substance: METRONIDAZOLE
     Dosage: 1200 MG, QD (CUMULATIVE DOSE TO FIRST REACTION: 1105150.0 MG)
     Route: 048
     Dates: start: 20171001, end: 20171008
  547. METRONIDAZOLE [Concomitant]
     Active Substance: METRONIDAZOLE
     Dosage: 500 MG (0.33 DAY) (CUMULATIVE DOSE: 475000.0 MG)
     Route: 048
     Dates: start: 20171030, end: 20171105
  548. MOVICOL [Concomitant]
     Active Substance: POLYETHYLENE GLYCOL 3350\POTASSIUM CHLORIDE\SODIUM BICARBONATE\SODIUM CHLORIDE
     Indication: Product used for unknown indication
     Dosage: 2 OTHER
     Route: 048
     Dates: start: 20170510
  549. NAPROXEN [Concomitant]
     Active Substance: NAPROXEN
     Indication: Product used for unknown indication
     Dosage: 250 MG SUBSEQUENT DOSE RECEIVED ON 16/JAN/2017, 02/AUG/2017 (UNCOATED, ORAL)
     Route: 048
     Dates: start: 20141128
  550. NAPROXEN [Concomitant]
     Active Substance: NAPROXEN
     Dosage: 250 MG, (UNCOATED, ORAL)
     Route: 048
     Dates: start: 20170116, end: 20170116
  551. NAPROXEN [Concomitant]
     Active Substance: NAPROXEN
     Dosage: 250 MG (UNCOATED, ORAL)
     Route: 048
     Dates: start: 20170802, end: 20170807
  552. NAPROXEN [Concomitant]
     Active Substance: NAPROXEN
     Dosage: 250 MG (UNCOATED, ORAL), AS NECESSARY
     Route: 048
     Dates: start: 20170802
  553. NAPROXEN [Concomitant]
     Active Substance: NAPROXEN
     Dosage: 250 MG, PRN (UNCOATED, ORAL), AS NECESSARY
     Route: 048
  554. NAPROXEN [Concomitant]
     Active Substance: NAPROXEN
     Dosage: 250 MG
     Dates: start: 20170802
  555. NAPROXEN [Concomitant]
     Active Substance: NAPROXEN
     Dosage: 250 MG SUBSEQUENT DOSE RECEIVED ON 16/JAN/2017, 02/AUG/2017)
     Route: 048
     Dates: start: 20141128
  556. NAPROXEN [Concomitant]
     Active Substance: NAPROXEN
     Dosage: 250 MG
     Route: 048
     Dates: start: 20141128, end: 20191015
  557. NAPROXEN [Concomitant]
     Active Substance: NAPROXEN
     Dosage: 250 MG
     Route: 048
     Dates: start: 20170802
  558. NAPROXEN [Concomitant]
     Active Substance: NAPROXEN
     Dosage: 250 MG SUBSEQUENT DOSE RECEIVED ON 16/JAN/2017, 02/AUG/2017 (UNCOATED, ORAL)
     Route: 048
     Dates: start: 20141128, end: 20191015
  559. NAPROXEN [Concomitant]
     Active Substance: NAPROXEN
     Dosage: 250 MG
  560. NAPROXEN [Concomitant]
     Active Substance: NAPROXEN
     Dosage: 250 MG
     Dates: start: 20170116, end: 20170116
  561. NAPROXEN [Concomitant]
     Active Substance: NAPROXEN
     Dosage: 250 MG, PRN (UNCOATED, ORAL), AS NECESSARY
     Route: 048
  562. NAPROXEN [Concomitant]
     Active Substance: NAPROXEN
     Dosage: 250 MG
     Route: 048
     Dates: start: 20141128, end: 20191015
  563. NAPROXEN [Concomitant]
     Active Substance: NAPROXEN
     Dosage: 250 MG, PRN
     Route: 048
     Dates: start: 20170802
  564. NAPROXEN [Concomitant]
     Active Substance: NAPROXEN
     Dosage: 250 MG, PRN
     Route: 048
     Dates: start: 20141128, end: 20191015
  565. NAPROXEN [Concomitant]
     Active Substance: NAPROXEN
     Dosage: 250 MG
     Route: 048
     Dates: start: 20170116, end: 20170116
  566. NAPROXEN [Concomitant]
     Active Substance: NAPROXEN
     Indication: Product used for unknown indication
     Dosage: 250 MG, (UNCOATED, ORAL)
     Dates: start: 20170116, end: 20170116
  567. NAPROXEN [Concomitant]
     Active Substance: NAPROXEN
     Dosage: 250 MG
     Route: 048
     Dates: start: 20170802
  568. NAPROXEN [Concomitant]
     Active Substance: NAPROXEN
     Dosage: 250 MG (SUBSEQUENT DOSE RECEIVED ON 16 JAN 2017, 02 AUG 2017)
     Route: 048
     Dates: start: 20141128, end: 20191015
  569. NAPROXEN [Concomitant]
     Active Substance: NAPROXEN
     Dosage: 250 MG (SUBSEQUENT DOSE RECEIVED ON 16 JAN 2017, 02 AUG 2017)
     Route: 048
     Dates: start: 20141128
  570. NAPROXEN [Concomitant]
     Active Substance: NAPROXEN
     Dosage: 250 MG
     Route: 048
     Dates: start: 20170802, end: 20170807
  571. NAPROXEN [Concomitant]
     Active Substance: NAPROXEN
     Dosage: 250 MG, PRN (UNCOATED, ORAL), AS NECESSARY
     Route: 048
  572. OMEPRAZOLE [Concomitant]
     Active Substance: OMEPRAZOLE
     Indication: Product used for unknown indication
     Dosage: 20 MG SUBSEQUENT DOSE RECEIVED ON 21 /JUN/2017 (UNCOATED, ORAL)
     Route: 042
     Dates: start: 20170530, end: 20170530
  573. OMEPRAZOLE [Concomitant]
     Active Substance: OMEPRAZOLE
     Dosage: 20 MG (UNCOATED, ORAL) (CUMULATIVE DOSE: 16279.167 MG)
     Route: 060
     Dates: start: 20170616, end: 20170621
  574. OMEPRAZOLE [Concomitant]
     Active Substance: OMEPRAZOLE
     Dosage: 20 MG (0.5 DAY)
     Dates: start: 20170531, end: 20170605
  575. OMEPRAZOLE [Concomitant]
     Active Substance: OMEPRAZOLE
     Dosage: 20 MG, DAILY (UNCOATED, ORAL) (CUMULATIVE DOSE TO FIRST REACTION: 15860.0 MG )
     Route: 060
     Dates: start: 20170616, end: 20170621
  576. OMEPRAZOLE [Concomitant]
     Active Substance: OMEPRAZOLE
     Dosage: 20 MG(CUMULATIVE DOSE TO FIRST REACTION: 15860.0 MG)
     Route: 048
     Dates: start: 20170616, end: 20170621
  577. OMEPRAZOLE [Concomitant]
     Active Substance: OMEPRAZOLE
     Dosage: 40 MG, DAILY (UNCOATED, ORAL)(CUMULATIVE DOSE TO FIRST REACTION: 31080.0 MG)
     Route: 048
     Dates: start: 20170531, end: 20170605
  578. OMEPRAZOLE [Concomitant]
     Active Substance: OMEPRAZOLE
     Dosage: 40 MG, DAILY (UNCOATED, ORAL)(CUMULATIVE DOSE TO FIRST REACTION: 31918.334 MG)
     Route: 048
     Dates: start: 20170531, end: 20170605
  579. OMEPRAZOLE [Concomitant]
     Active Substance: OMEPRAZOLE
     Dosage: 20 MG SUBSEQUENT DOSE RECEIVED ON 21 JUN 2017 (UNCOATED, ORAL)
     Route: 042
     Dates: start: 20170530, end: 20170530
  580. OMEPRAZOLE [Concomitant]
     Active Substance: OMEPRAZOLE
     Dosage: 20 MG, QD (CUMULATIVE DOSE: 240 MG)
     Route: 060
     Dates: start: 20170616, end: 20170621
  581. OMEPRAZOLE [Concomitant]
     Active Substance: OMEPRAZOLE
     Dosage: 20 MG (0.5 DAY) (CUMULATIVE DOSE: 240 MG)
     Route: 048
     Dates: start: 20170531, end: 20170605
  582. OMEPRAZOLE [Concomitant]
     Active Substance: OMEPRAZOLE
     Dosage: 20 MG (0.5 DAY)
     Route: 048
     Dates: start: 20170531, end: 20170605
  583. OMEPRAZOLE [Concomitant]
     Active Substance: OMEPRAZOLE
     Dosage: 20 MG
     Dates: start: 20170616, end: 20170621
  584. OMEPRAZOLE [Concomitant]
     Active Substance: OMEPRAZOLE
     Dosage: 20 MG (0.5 DAY)
     Dates: start: 20170531, end: 20170605
  585. OMEPRAZOLE [Concomitant]
     Active Substance: OMEPRAZOLE
     Dosage: 40 MG (0.5 DAY)
     Route: 048
     Dates: start: 20170531, end: 20170605
  586. OMEPRAZOLE [Concomitant]
     Active Substance: OMEPRAZOLE
     Dosage: 40 MG, QD (CUMULATIVE DOSE TO FIRST REACTION: 31918.334 MG)
     Route: 048
     Dates: start: 20170531, end: 20170605
  587. OMEPRAZOLE [Concomitant]
     Active Substance: OMEPRAZOLE
     Dosage: 20 MG, QD (CUMULATIVE DOSE TO FIRST REACTION: 16279.167 MG)
     Route: 060
     Dates: end: 20170621
  588. OMEPRAZOLE [Concomitant]
     Active Substance: OMEPRAZOLE
     Dosage: 40 MG (0.5 DAY); CUMULATIVE DOSE TO FIRST REACTION: 360 MG
     Dates: start: 20170531, end: 20170605
  589. OMEPRAZOLE [Concomitant]
     Active Substance: OMEPRAZOLE
     Dosage: 40 MG (0.5 DAY); CUMULATIVE DOSE TO FIRST REACTION: 360 MG
     Dates: start: 20170531, end: 20170605
  590. ONDANSETRON [Concomitant]
     Active Substance: ONDANSETRON
     Indication: Illness
     Dosage: 16 MG, QD (CUMULATIVE DOSE: 1007.3333 MG)
     Route: 042
     Dates: start: 20150527, end: 20150608
  591. ONDANSETRON [Concomitant]
     Active Substance: ONDANSETRON
     Dosage: 8 MG, BID
     Route: 042
     Dates: start: 20150527, end: 20150608
  592. ONDANSETRON [Concomitant]
     Active Substance: ONDANSETRON
     Dosage: 8 MG (0.5 DAY)
     Route: 042
     Dates: start: 20150527, end: 20150608
  593. ONDANSETRON [Concomitant]
     Active Substance: ONDANSETRON
     Dosage: 16 MG, QD(CUMULATIVE DOSE TO FIRST REACTION: 672.0 MG)
     Route: 042
     Dates: start: 20150527, end: 20150608
  594. ONDANSETRON [Concomitant]
     Active Substance: ONDANSETRON
     Dosage: 16 MG, QD (CUMULATIVE DOSE: 1007.3333 MG)
     Route: 042
     Dates: start: 20150527, end: 20150608
  595. ONDANSETRON [Concomitant]
     Active Substance: ONDANSETRON
     Dosage: 16 MG, QD(CUMULATIVE DOSE TO FIRST REACTION: 208 MG)
     Route: 042
     Dates: start: 20150527, end: 20150608
  596. ONDANSETRON [Concomitant]
     Active Substance: ONDANSETRON
     Dosage: 8 MG (CUMULATIVE DOSE TO FIRST REACTION: 208 MG)
     Route: 042
     Dates: start: 20150527, end: 20150608
  597. ONDANSETRON [Concomitant]
     Active Substance: ONDANSETRON
     Dosage: 8 MG (0.5 DAY)
     Dates: start: 20150527, end: 20150608
  598. ONDANSETRON [Concomitant]
     Active Substance: ONDANSETRON
     Dosage: 16 MG (8 MG, BID)
     Route: 042
     Dates: start: 20150527, end: 20150608
  599. ACETAMINOPHEN [Concomitant]
     Active Substance: ACETAMINOPHEN
     Indication: Product used for unknown indication
     Dosage: 2000 MG, QD
     Route: 048
     Dates: start: 20171001, end: 20171008
  600. ACETAMINOPHEN [Concomitant]
     Active Substance: ACETAMINOPHEN
     Dosage: 500 MG, QID
     Route: 048
     Dates: start: 20171001, end: 20171008
  601. ACETAMINOPHEN [Concomitant]
     Active Substance: ACETAMINOPHEN
     Dosage: UNK
  602. ACETAMINOPHEN [Concomitant]
     Active Substance: ACETAMINOPHEN
     Dosage: 500 MG, QID (1841916.6 MG )
     Route: 048
     Dates: start: 20171001, end: 20171008
  603. ACETAMINOPHEN [Concomitant]
     Active Substance: ACETAMINOPHEN
     Dosage: 500 MG, QID
     Route: 048
     Dates: start: 20171001, end: 20171008
  604. ACETAMINOPHEN [Concomitant]
     Active Substance: ACETAMINOPHEN
     Dosage: UNK
  605. ACETAMINOPHEN [Concomitant]
     Active Substance: ACETAMINOPHEN
     Dosage: 2000 MG, QID (500 MG, QID)
     Route: 048
     Dates: start: 20171001, end: 20171008
  606. PEGFILGRASTIM [Concomitant]
     Active Substance: PEGFILGRASTIM
     Indication: Prophylaxis
     Dosage: 6 MG EVERY 3 WEEKS
     Route: 058
     Dates: start: 20150211, end: 20150709
  607. PEGFILGRASTIM [Concomitant]
     Active Substance: PEGFILGRASTIM
     Dosage: 6 MG, TIW (CUMULATIVE DOSE: 48 MG)
     Route: 058
     Dates: start: 20150211, end: 20150709
  608. PEGFILGRASTIM [Concomitant]
     Active Substance: PEGFILGRASTIM
     Dosage: 6 MG
     Route: 058
     Dates: start: 20150211, end: 20150709
  609. PEGFILGRASTIM [Concomitant]
     Active Substance: PEGFILGRASTIM
     Dosage: 6 MG (CUMULATIVE DOSE: 48 MG)
     Dates: start: 20150211, end: 20150709
  610. PEGFILGRASTIM [Concomitant]
     Active Substance: PEGFILGRASTIM
     Dosage: 6 MG EVERY 3 WEEKS, CUMULATIVE DOSE TO FIRST REACTION: 48 MG
     Route: 058
     Dates: start: 20150211, end: 20150709
  611. SUDAFED NASAL DECONGESTANT MAXIMUM STRENGTH [Concomitant]
     Active Substance: PSEUDOEPHEDRINE HYDROCHLORIDE
     Indication: Nasopharyngitis
     Dosage: 60 MG (UNCOATED, ORAL)
     Route: 048
     Dates: start: 20160113, end: 20160203
  612. SUDAFED NASAL DECONGESTANT MAXIMUM STRENGTH [Concomitant]
     Active Substance: PSEUDOEPHEDRINE HYDROCHLORIDE
     Dosage: 60 MG,(UNCOATED, ORAL) AS NECESSARY
     Route: 048
     Dates: start: 20160113
  613. SUDAFED NASAL DECONGESTANT MAXIMUM STRENGTH [Concomitant]
     Active Substance: PSEUDOEPHEDRINE HYDROCHLORIDE
     Dosage: 60 MG
     Route: 048
     Dates: start: 20160113, end: 20160203
  614. SUDAFED NASAL DECONGESTANT MAXIMUM STRENGTH [Concomitant]
     Active Substance: PSEUDOEPHEDRINE HYDROCHLORIDE
     Dosage: 60 MG, PRN (UNCOATED, ORAL) AS NECESSARY)
     Route: 048
     Dates: start: 20160113
  615. SUDAFED NASAL DECONGESTANT MAXIMUM STRENGTH [Concomitant]
     Active Substance: PSEUDOEPHEDRINE HYDROCHLORIDE
     Dosage: 60 MG,(UNCOATED, ORAL) AS NECESSARY
     Route: 048
     Dates: start: 20160113, end: 20160203
  616. SUDAFED NASAL DECONGESTANT MAXIMUM STRENGTH [Concomitant]
     Active Substance: PSEUDOEPHEDRINE HYDROCHLORIDE
     Dosage: 60 MG, UNK
     Route: 048
  617. SUDAFED NASAL DECONGESTANT MAXIMUM STRENGTH [Concomitant]
     Active Substance: PSEUDOEPHEDRINE HYDROCHLORIDE
     Dosage: 60 MG, PRN (UNCOATED, ORAL) AS NECESSARY)
     Route: 048
     Dates: start: 20160113, end: 20160203
  618. ZOMETA [Concomitant]
     Active Substance: ZOLEDRONIC ACID
     Indication: Product used for unknown indication
     Dosage: 3 MG EVERY 3 WEEKS (UNCOATED, ORAL)
     Route: 042
     Dates: start: 20151111
  619. ZOMETA [Concomitant]
     Active Substance: ZOLEDRONIC ACID
     Dosage: 3 MG, TIW (UNCOATED, ORAL)
     Route: 042
     Dates: start: 20151111
  620. ZOMETA [Concomitant]
     Active Substance: ZOLEDRONIC ACID
     Dosage: 3 MG
     Dates: start: 20151111
  621. ZOMETA [Concomitant]
     Active Substance: ZOLEDRONIC ACID
     Dosage: 3 MG
     Route: 042
     Dates: start: 20151111
  622. ZOMETA [Concomitant]
     Active Substance: ZOLEDRONIC ACID
     Dosage: 3 MG EVERY 3 WEEKS CUMULATIVE DOSE TO FIRST REACTION: 15.005952 MG
     Route: 042
     Dates: start: 20151111
  623. ZOMETA [Concomitant]
     Active Substance: ZOLEDRONIC ACID
     Indication: Product used for unknown indication
     Dosage: 3 MG
     Route: 042
     Dates: start: 20151111
  624. METOCLOPRAMIDE [Concomitant]
     Active Substance: METOCLOPRAMIDE
     Indication: Product used for unknown indication
     Dosage: 400 MG
     Dates: start: 20171001
  625. METOCLOPRAMIDE [Concomitant]
     Active Substance: METOCLOPRAMIDE
     Dosage: 10 MG (0.33 DAY)
     Dates: start: 20170510, end: 2017
  626. METOCLOPRAMIDE [Concomitant]
     Active Substance: METOCLOPRAMIDE
     Dosage: 10 MG (0.33 DAY)
     Dates: start: 20150527, end: 20150708
  627. METOCLOPRAMIDE [Concomitant]
     Active Substance: METOCLOPRAMIDE
     Dosage: 10 MG
     Route: 048
     Dates: start: 20170510, end: 2017
  628. METOCLOPRAMIDE [Concomitant]
     Active Substance: METOCLOPRAMIDE
     Dosage: UNK (2 OTHER (CUMULATIVE DOSE: 1290 MG))
     Dates: start: 20170510
  629. METOCLOPRAMIDE [Concomitant]
     Active Substance: METOCLOPRAMIDE
     Dosage: 400 MG (CUMULATIVE DOSE: 1290 MG)
     Dates: start: 20171001, end: 20171008
  630. METOCLOPRAMIDE [Concomitant]
     Active Substance: METOCLOPRAMIDE
     Dosage: 30 MG, QW 30MG QD (UNCOATED, ORAL)(CUMULATIVE DOSE TO FIRST REACTION: 1260.0 MG)
     Dates: start: 20150527, end: 20150708
  631. LOPERAMIDE [Concomitant]
     Active Substance: LOPERAMIDE
     Indication: Product used for unknown indication
     Dosage: 4 MG (UNCOATED, ORAL)
     Route: 048
     Dates: start: 20150306, end: 20150308
  632. MICONAZOLE NITRATE [Concomitant]
     Active Substance: MICONAZOLE NITRATE
     Indication: Rash
     Dosage: 20 MG (0.5 DAY)
     Dates: start: 20161129, end: 20170101
  633. DOXYCYCLINE [Concomitant]
     Active Substance: DOXYCYCLINE
     Indication: Dermatitis acneiform
     Dosage: 100 MG, QD
     Dates: start: 20190607
  634. DOXYCYCLINE [Concomitant]
     Active Substance: DOXYCYCLINE
     Dosage: 100 MG
     Dates: start: 20190607
  635. DOXYCYCLINE [Concomitant]
     Active Substance: DOXYCYCLINE
     Dosage: 100 MG
     Dates: start: 20150427, end: 20150608
  636. DOXYCYCLINE [Concomitant]
     Active Substance: DOXYCYCLINE
     Dosage: 100 MG
     Dates: start: 20171106, end: 20191019
  637. DOXYCYCLINE [Concomitant]
     Active Substance: DOXYCYCLINE
     Dosage: 100 MG, QD
     Dates: start: 20171106, end: 20191019
  638. DOXYCYCLINE [Concomitant]
     Active Substance: DOXYCYCLINE
     Dosage: 100 MG, QD
     Dates: start: 20171012, end: 20171029
  639. DOXYCYCLINE [Concomitant]
     Active Substance: DOXYCYCLINE
     Dosage: 100 MG, QD (CUMULATIVE DOSE TO FIRST REACTION: 3295.8333 MG)
     Route: 048
     Dates: start: 20150427, end: 20150608
  640. DOXYCYCLINE [Concomitant]
     Active Substance: DOXYCYCLINE
     Dosage: 100 MG, QD (CUMULATIVE DOSE TO FIRST REACTION: 3295.8333 MG)
     Route: 048
     Dates: start: 20150427, end: 20150608
  641. DOXYCYCLINE [Concomitant]
     Active Substance: DOXYCYCLINE
     Dosage: 100 MG, QD (CUMULATIVE DOSE TO FIRST REACTION: 3295.8333 MG)
     Route: 048
     Dates: start: 20150427, end: 20150608
  642. BETAMETHASONE VALERATE\FUSIDIC ACID [Concomitant]
     Active Substance: BETAMETHASONE VALERATE\FUSIDIC ACID
     Indication: Product used for unknown indication
     Dosage: 0.1 %, PRN
     Route: 061
     Dates: start: 20151123
  643. METRONIDAZOLE [Concomitant]
     Active Substance: METRONIDAZOLE
     Indication: Product used for unknown indication
     Dosage: 500 MG (0.33 DAY)
     Dates: start: 20171030, end: 20171105
  644. METRONIDAZOLE [Concomitant]
     Active Substance: METRONIDAZOLE
     Dosage: 500 MG (0.33 DAY)
     Dates: start: 20171001, end: 20171008
  645. METRONIDAZOLE [Concomitant]
     Active Substance: METRONIDAZOLE
     Dosage: 500 MG (0.33 DAY)
     Route: 048
     Dates: start: 20171030, end: 20171105
  646. METRONIDAZOLE [Concomitant]
     Active Substance: METRONIDAZOLE
     Dosage: 500 MG
     Dates: start: 20171030, end: 20171105
  647. METRONIDAZOLE [Concomitant]
     Active Substance: METRONIDAZOLE
     Dosage: 400 MG
     Dates: start: 20171001, end: 20171008
  648. METRONIDAZOLE [Concomitant]
     Active Substance: METRONIDAZOLE
     Dosage: 400 MG
     Dates: start: 20171001, end: 20171008
  649. SUDAFED NASAL DECONGESTANT MAXIMUM STRENGTH [Concomitant]
     Active Substance: PSEUDOEPHEDRINE HYDROCHLORIDE
     Dosage: 60 MG, PRN (UNCOATED, ORAL) AS NECESSARY)
     Route: 048
     Dates: start: 20160113, end: 20160203
  650. SUDAFED NASAL DECONGESTANT MAXIMUM STRENGTH [Concomitant]
     Active Substance: PSEUDOEPHEDRINE HYDROCHLORIDE
     Dosage: 60 MG, PRN (UNCOATED, ORAL) AS NECESSARY)
     Route: 048
     Dates: start: 20160113
  651. PEGFILGRASTIM [Concomitant]
     Active Substance: PEGFILGRASTIM
     Indication: Product used for unknown indication
     Dosage: 6 MG
     Dates: start: 20150211, end: 20150709
  652. PEGFILGRASTIM [Concomitant]
     Active Substance: PEGFILGRASTIM
     Dosage: 6 MG, TIW (CUMULATIVE DOSE: 48 MG)
     Route: 058
     Dates: start: 20150211, end: 20150709
  653. CALCIUM CARBONATE\CHOLECALCIFEROL [Concomitant]
     Active Substance: CALCIUM CARBONATE\CHOLECALCIFEROL
     Indication: Product used for unknown indication
     Dosage: 1.5 G
     Dates: start: 20150729, end: 20151202
  654. CALCIUM CARBONATE\CHOLECALCIFEROL [Concomitant]
     Active Substance: CALCIUM CARBONATE\CHOLECALCIFEROL
     Dosage: 1.5 G
     Dates: start: 20151203, end: 20190813
  655. CALCIUM CARBONATE\CHOLECALCIFEROL [Concomitant]
     Active Substance: CALCIUM CARBONATE\CHOLECALCIFEROL
     Dosage: 1.5 G, BID
     Dates: start: 20150729, end: 20151202
  656. CALCIUM CARBONATE\CHOLECALCIFEROL [Concomitant]
     Active Substance: CALCIUM CARBONATE\CHOLECALCIFEROL
     Dosage: 1.5 G
     Dates: start: 20151203, end: 20190813
  657. CALCIUM CARBONATE\CHOLECALCIFEROL [Concomitant]
     Active Substance: CALCIUM CARBONATE\CHOLECALCIFEROL
     Dosage: 1.5 G, BID (PROPHALATIC TREATMENT WITH LETROZOLE)
     Route: 048
     Dates: start: 20150629, end: 20151202
  658. AMOXICILLIN\CLAVULANATE POTASSIUM [Concomitant]
     Active Substance: AMOXICILLIN\CLAVULANATE POTASSIUM
     Indication: Product used for unknown indication
     Dosage: 400 MG, BID (CUMULATIVE DOSE TO FIRST REACTION: 760000.0 MG)
     Dates: start: 20171030, end: 20171105
  659. AMOXICILLIN\CLAVULANATE POTASSIUM [Concomitant]
     Active Substance: AMOXICILLIN\CLAVULANATE POTASSIUM
     Dosage: 500 MG
     Route: 048
     Dates: start: 20171001, end: 20171008
  660. AMOXICILLIN\CLAVULANATE POTASSIUM [Concomitant]
     Active Substance: AMOXICILLIN\CLAVULANATE POTASSIUM
     Dosage: 500 MG
     Route: 048
     Dates: start: 20170926

REACTIONS (18)
  - Tooth abscess [Recovered/Resolved]
  - Tooth infection [Recovered/Resolved]
  - Dermatitis acneiform [Recovered/Resolved with Sequelae]
  - Facial pain [Recovered/Resolved]
  - Joint stiffness [Recovered/Resolved]
  - Onychomadesis [Recovered/Resolved]
  - Tooth loss [Recovered/Resolved]
  - Blood calcium decreased [Recovered/Resolved]
  - Pain in jaw [Not Recovered/Not Resolved]
  - Skin fissures [Recovered/Resolved]
  - Alopecia [Recovered/Resolved]
  - Anxiety [Recovered/Resolved]
  - Arthralgia [Recovered/Resolved]
  - Back pain [Recovered/Resolved]
  - Dry skin [Recovered/Resolved]
  - Neuropathy peripheral [Recovered/Resolved]
  - Tooth abscess [Not Recovered/Not Resolved]
  - Weight decreased [Recovered/Resolved]

NARRATIVE: CASE EVENT DATE: 20150325
